FAERS Safety Report 21018954 (Version 80)
Quarter: 2025Q2

REPORT INFORMATION
  Report Type: Spontaneous
  Country: CA (occurrence: CA)
  Receive Date: 20220628
  Receipt Date: 20250627
  Transmission Date: 20250717
  Serious: Yes (Other)
  Sender: PFIZER
  Company Number: CA-PFIZER INC-2020321392

PATIENT
  Age: 41 Year
  Sex: Female

DRUGS (634)
  1. LANSOPRAZOLE [Suspect]
     Active Substance: LANSOPRAZOLE
     Indication: Migraine
     Route: 065
  2. LANSOPRAZOLE [Suspect]
     Active Substance: LANSOPRAZOLE
     Dosage: 1 DOSAGE FORM, QD
     Route: 065
  3. LANSOPRAZOLE [Suspect]
     Active Substance: LANSOPRAZOLE
     Route: 065
  4. AZITHROMYCIN [Suspect]
     Active Substance: AZITHROMYCIN
     Indication: Migraine
     Route: 065
  5. AZITHROMYCIN [Suspect]
     Active Substance: AZITHROMYCIN
     Route: 065
  6. AZITHROMYCIN [Suspect]
     Active Substance: AZITHROMYCIN
     Dates: start: 20120523, end: 20120523
  7. AZITHROMYCIN [Suspect]
     Active Substance: AZITHROMYCIN
     Dates: start: 20190208, end: 20190208
  8. AZITHROMYCIN [Suspect]
     Active Substance: AZITHROMYCIN
     Dates: start: 20190218, end: 20190218
  9. CIPROFLOXACIN [Suspect]
     Active Substance: CIPROFLOXACIN
     Indication: Migraine
     Dosage: 500 MILLIGRAM
     Route: 048
  10. CIPROFLOXACIN [Suspect]
     Active Substance: CIPROFLOXACIN
     Dosage: 1 DOSAGE FORM, BID
     Route: 048
     Dates: start: 20170930, end: 20170930
  11. CIPROFLOXACIN [Suspect]
     Active Substance: CIPROFLOXACIN
     Dosage: 2 DOSAGE FORM, QD
     Route: 048
  12. CIPROFLOXACIN [Suspect]
     Active Substance: CIPROFLOXACIN
     Dosage: 2 DOSAGE FORM, QD
     Route: 065
  13. CIPROFLOXACIN [Suspect]
     Active Substance: CIPROFLOXACIN
     Dosage: 2 DOSAGE FORM, QD
     Route: 065
  14. CIPROFLOXACIN [Suspect]
     Active Substance: CIPROFLOXACIN
     Dosage: 1 DOSAGE FORM, Q12H
     Route: 065
  15. CIPROFLOXACIN [Suspect]
     Active Substance: CIPROFLOXACIN
     Dosage: 2 DOSAGE FORM, BID
     Route: 048
  16. CIPROFLOXACIN [Suspect]
     Active Substance: CIPROFLOXACIN
     Dosage: 1 DOSAGE FORM, QD
     Route: 048
  17. CIPROFLOXACIN [Suspect]
     Active Substance: CIPROFLOXACIN
     Route: 048
  18. FLUCONAZOLE [Suspect]
     Active Substance: FLUCONAZOLE
     Indication: Migraine
     Route: 065
  19. FLUCONAZOLE [Suspect]
     Active Substance: FLUCONAZOLE
     Route: 065
  20. FLUCONAZOLE [Suspect]
     Active Substance: FLUCONAZOLE
     Dosage: 1 DOSAGE FORM, QD
     Route: 065
  21. FLUCONAZOLE [Suspect]
     Active Substance: FLUCONAZOLE
     Dates: start: 20180424, end: 20180424
  22. HYDROMORPHONE HYDROCHLORIDE [Suspect]
     Active Substance: HYDROMORPHONE HYDROCHLORIDE
     Indication: Migraine
     Route: 065
  23. HYDROMORPHONE HYDROCHLORIDE [Suspect]
     Active Substance: HYDROMORPHONE HYDROCHLORIDE
     Dosage: 1 DF, 2X/DAY (1 DOSAGE FORM Q12H)
     Route: 065
     Dates: start: 20140203, end: 20140203
  24. HYDROMORPHONE HYDROCHLORIDE [Suspect]
     Active Substance: HYDROMORPHONE HYDROCHLORIDE
     Dosage: 1 DF, 2X/DAY (1 DOSAGE FORM Q12H)
     Route: 065
     Dates: start: 20140402, end: 20140402
  25. HYDROMORPHONE HYDROCHLORIDE [Suspect]
     Active Substance: HYDROMORPHONE HYDROCHLORIDE
     Dosage: 1 DOSAGE FORM Q12H
     Route: 065
     Dates: start: 20140325, end: 20140325
  26. HYDROMORPHONE HYDROCHLORIDE [Suspect]
     Active Substance: HYDROMORPHONE HYDROCHLORIDE
     Dosage: 1 DF, 2X/DAY (1 DOSAGE FORM Q12H)
     Route: 065
     Dates: start: 20140612, end: 20140612
  27. HYDROMORPHONE HYDROCHLORIDE [Suspect]
     Active Substance: HYDROMORPHONE HYDROCHLORIDE
     Dosage: 1 DF, 2X/DAY (1 DOSAGE FORM Q12H)
     Route: 005
     Dates: start: 20140813, end: 20140813
  28. HYDROMORPHONE HYDROCHLORIDE [Suspect]
     Active Substance: HYDROMORPHONE HYDROCHLORIDE
     Dosage: 1 DF, 2X/DAY (1 DOSAGE FORM Q12H)
     Route: 065
     Dates: start: 20141113, end: 20141113
  29. HYDROMORPHONE HYDROCHLORIDE [Suspect]
     Active Substance: HYDROMORPHONE HYDROCHLORIDE
     Dosage: 1 DF, 2X/DAY (1 DOSAGE FORM Q12H)
     Route: 065
     Dates: start: 20141128, end: 20141128
  30. HYDROMORPHONE HYDROCHLORIDE [Suspect]
     Active Substance: HYDROMORPHONE HYDROCHLORIDE
     Dosage: 1 DF, 2X/DAY (1 DOSAGE FORM Q12H)
     Route: 065
     Dates: start: 20150121, end: 20150121
  31. HYDROMORPHONE HYDROCHLORIDE [Suspect]
     Active Substance: HYDROMORPHONE HYDROCHLORIDE
     Dosage: 1 DF, 2X/DAY (1 DOSAGE FORM Q12H)
     Route: 065
     Dates: start: 20150227, end: 20150227
  32. HYDROMORPHONE HYDROCHLORIDE [Suspect]
     Active Substance: HYDROMORPHONE HYDROCHLORIDE
     Dosage: 1 DF, 2X/DAY (1 DOSAGE FORM Q12H)
     Route: 065
     Dates: start: 20150413, end: 20150413
  33. HYDROMORPHONE HYDROCHLORIDE [Suspect]
     Active Substance: HYDROMORPHONE HYDROCHLORIDE
     Dosage: 1 DF, 2X/DAY (1 DOSAGE FORM Q12H)
     Route: 065
     Dates: start: 20150506, end: 20150510
  34. HYDROMORPHONE HYDROCHLORIDE [Suspect]
     Active Substance: HYDROMORPHONE HYDROCHLORIDE
     Dosage: 1 DF, 2X/DAY (1 DOSAGE FORM Q12H)
     Route: 065
     Dates: start: 20150709, end: 20150902
  35. HYDROMORPHONE HYDROCHLORIDE [Suspect]
     Active Substance: HYDROMORPHONE HYDROCHLORIDE
     Dosage: 1 DF, 2X/DAY (1 DOSAGE FORM Q12H)
     Route: 065
     Dates: start: 20151013, end: 20151207
  36. HYDROMORPHONE HYDROCHLORIDE [Suspect]
     Active Substance: HYDROMORPHONE HYDROCHLORIDE
     Dosage: 1 DF, 2X/DAY (1 DOSAGE FORM Q12H)
     Route: 065
     Dates: start: 20151216, end: 20160226
  37. HYDROMORPHONE HYDROCHLORIDE [Suspect]
     Active Substance: HYDROMORPHONE HYDROCHLORIDE
     Dosage: 1 DF, 2X/DAY (1 DOSAGE FORM Q12H)
     Route: 065
     Dates: start: 20160322, end: 20160516
  38. HYDROMORPHONE HYDROCHLORIDE [Suspect]
     Active Substance: HYDROMORPHONE HYDROCHLORIDE
     Dosage: 1 DF, 2X/DAY (1 DOSAGE FORM Q12H)
     Route: 065
     Dates: start: 20160418, end: 20160418
  39. HYDROMORPHONE HYDROCHLORIDE [Suspect]
     Active Substance: HYDROMORPHONE HYDROCHLORIDE
     Dosage: 1 DF, 2X/DAY (1 DOSAGE FORM Q12H)
     Route: 065
     Dates: start: 20160609, end: 20161027
  40. HYDROMORPHONE HYDROCHLORIDE [Suspect]
     Active Substance: HYDROMORPHONE HYDROCHLORIDE
     Dosage: 1 DF, 2X/DAY (1 DOSAGE FORM Q12H)
     Route: 065
     Dates: start: 20161116, end: 20170116
  41. HYDROMORPHONE HYDROCHLORIDE [Suspect]
     Active Substance: HYDROMORPHONE HYDROCHLORIDE
     Dosage: 1 DF, 2X/DAY(1 DOSAGE FORM Q12H)
     Route: 065
     Dates: start: 20170118, end: 20170410
  42. HYDROMORPHONE HYDROCHLORIDE [Suspect]
     Active Substance: HYDROMORPHONE HYDROCHLORIDE
     Dosage: 1 DF, 2X/DAY (1 DOSAGE FORM Q12H)
     Route: 065
     Dates: start: 20170505, end: 20170921
  43. HYDROMORPHONE HYDROCHLORIDE [Suspect]
     Active Substance: HYDROMORPHONE HYDROCHLORIDE
     Dosage: 1 DF, 2X/DAY (1 DOSAGE FORM Q12H)
     Route: 065
     Dates: start: 20171018, end: 20180303
  44. HYDROMORPHONE HYDROCHLORIDE [Suspect]
     Active Substance: HYDROMORPHONE HYDROCHLORIDE
     Dosage: 1 DF, 2X/DAY (1 DOSAGE FORM Q12H)
     Route: 065
     Dates: start: 20180316, end: 20180821
  45. HYDROMORPHONE HYDROCHLORIDE [Suspect]
     Active Substance: HYDROMORPHONE HYDROCHLORIDE
     Dosage: 1 DF, 2X/DAY (1 DOSAGE FORM Q12H)
     Route: 065
     Dates: start: 20200213
  46. HYDROMORPHONE HYDROCHLORIDE [Suspect]
     Active Substance: HYDROMORPHONE HYDROCHLORIDE
     Dosage: 1 DF, 2X/DAY
     Route: 065
  47. HYDROMORPHONE HYDROCHLORIDE [Suspect]
     Active Substance: HYDROMORPHONE HYDROCHLORIDE
     Dosage: 1 DF, 2X/DAY
     Route: 065
  48. HYDROMORPHONE HYDROCHLORIDE [Suspect]
     Active Substance: HYDROMORPHONE HYDROCHLORIDE
     Dosage: 1 DF, 2X/DAY
     Route: 065
  49. HYDROMORPHONE HYDROCHLORIDE [Suspect]
     Active Substance: HYDROMORPHONE HYDROCHLORIDE
     Dosage: 1 DF, 2X/DAY
     Route: 065
  50. HYDROMORPHONE HYDROCHLORIDE [Suspect]
     Active Substance: HYDROMORPHONE HYDROCHLORIDE
     Route: 065
  51. HYDROMORPHONE HYDROCHLORIDE [Suspect]
     Active Substance: HYDROMORPHONE HYDROCHLORIDE
     Dosage: 2 DOSAGE FORM, QD
     Route: 065
  52. ACETAMINOPHEN [Suspect]
     Active Substance: ACETAMINOPHEN
     Indication: Migraine
     Route: 065
  53. CODEINE [Suspect]
     Active Substance: CODEINE
     Indication: Migraine
     Route: 048
  54. CODEINE [Suspect]
     Active Substance: CODEINE
     Route: 048
     Dates: start: 20130130, end: 20130130
  55. TOPIRAMATE [Suspect]
     Active Substance: TOPIRAMATE
     Indication: Migraine
     Route: 065
  56. TOPIRAMATE [Suspect]
     Active Substance: TOPIRAMATE
     Route: 065
  57. METRONIDAZOLE [Suspect]
     Active Substance: METRONIDAZOLE
     Indication: Migraine
     Route: 065
  58. METRONIDAZOLE [Suspect]
     Active Substance: METRONIDAZOLE
     Route: 065
  59. VENLAFAXINE HCL [Suspect]
     Active Substance: VENLAFAXINE HYDROCHLORIDE
     Indication: Migraine
     Route: 065
     Dates: start: 201601, end: 202103
  60. VENLAFAXINE HCL [Suspect]
     Active Substance: VENLAFAXINE HYDROCHLORIDE
     Route: 065
  61. VENLAFAXINE HCL [Suspect]
     Active Substance: VENLAFAXINE HYDROCHLORIDE
     Route: 065
  62. SERTRALINE HYDROCHLORIDE [Suspect]
     Active Substance: SERTRALINE HYDROCHLORIDE
     Indication: Migraine
     Route: 065
  63. SERTRALINE HYDROCHLORIDE [Suspect]
     Active Substance: SERTRALINE HYDROCHLORIDE
     Route: 065
  64. SERTRALINE HYDROCHLORIDE [Suspect]
     Active Substance: SERTRALINE HYDROCHLORIDE
     Route: 065
  65. LISINOPRIL [Suspect]
     Active Substance: LISINOPRIL
     Indication: Migraine
     Dosage: 1 DF, 1X/DAY
     Route: 048
  66. LISINOPRIL [Suspect]
     Active Substance: LISINOPRIL
     Dosage: 1 DF, 1X/DAY
     Route: 065
  67. LISINOPRIL [Suspect]
     Active Substance: LISINOPRIL
     Dosage: 2 DF, 1X/DAY
     Route: 048
  68. PROPRANOLOL HYDROCHLORIDE [Suspect]
     Active Substance: PROPRANOLOL HYDROCHLORIDE
     Indication: Migraine
     Route: 048
  69. PROPRANOLOL HYDROCHLORIDE [Suspect]
     Active Substance: PROPRANOLOL HYDROCHLORIDE
     Route: 048
     Dates: start: 202001, end: 202101
  70. PROPRANOLOL HYDROCHLORIDE [Suspect]
     Active Substance: PROPRANOLOL HYDROCHLORIDE
     Route: 048
     Dates: start: 202001, end: 202101
  71. PROPRANOLOL HYDROCHLORIDE [Suspect]
     Active Substance: PROPRANOLOL HYDROCHLORIDE
     Route: 065
  72. PROPRANOLOL HYDROCHLORIDE [Suspect]
     Active Substance: PROPRANOLOL HYDROCHLORIDE
     Route: 065
  73. PROPRANOLOL HYDROCHLORIDE [Suspect]
     Active Substance: PROPRANOLOL HYDROCHLORIDE
     Route: 065
  74. PROPRANOLOL HYDROCHLORIDE [Suspect]
     Active Substance: PROPRANOLOL HYDROCHLORIDE
     Route: 065
  75. METOCLOPRAMIDE HYDROCHLORIDE [Suspect]
     Active Substance: METOCLOPRAMIDE HYDROCHLORIDE
     Indication: Migraine
     Route: 065
  76. METOCLOPRAMIDE HYDROCHLORIDE [Suspect]
     Active Substance: METOCLOPRAMIDE HYDROCHLORIDE
     Route: 065
  77. METOCLOPRAMIDE HYDROCHLORIDE [Suspect]
     Active Substance: METOCLOPRAMIDE HYDROCHLORIDE
     Route: 065
  78. METOCLOPRAMIDE HYDROCHLORIDE [Suspect]
     Active Substance: METOCLOPRAMIDE HYDROCHLORIDE
     Route: 065
  79. METOCLOPRAMIDE HYDROCHLORIDE [Suspect]
     Active Substance: METOCLOPRAMIDE HYDROCHLORIDE
  80. AMOXICILLIN [Suspect]
     Active Substance: AMOXICILLIN
     Dosage: 2 DF, 3X/DAY  (2 DOSAGE FORMS, 3 HR)
     Route: 065
  81. AMOXICILLIN [Suspect]
     Active Substance: AMOXICILLIN
     Dosage: 6 DF, 3X/DAY
     Route: 065
  82. AMOXICILLIN [Suspect]
     Active Substance: AMOXICILLIN
     Dosage: 2 DF, 1X/DAY
     Route: 065
  83. AMOXICILLIN [Suspect]
     Active Substance: AMOXICILLIN
     Dosage: 6 DF, DAILY
     Route: 065
  84. ESCITALOPRAM [Suspect]
     Active Substance: ESCITALOPRAM OXALATE
     Indication: Migraine
     Route: 048
  85. ESCITALOPRAM [Suspect]
     Active Substance: ESCITALOPRAM OXALATE
     Route: 048
  86. ESOMEPRAZOLE [Suspect]
     Active Substance: ESOMEPRAZOLE
     Indication: Migraine
     Route: 048
  87. ESOMEPRAZOLE [Suspect]
     Active Substance: ESOMEPRAZOLE
     Route: 065
  88. ESOMEPRAZOLE [Suspect]
     Active Substance: ESOMEPRAZOLE
  89. RIZATRIPTAN BENZOATE [Suspect]
     Active Substance: RIZATRIPTAN BENZOATE
     Indication: Migraine
     Dosage: 10 MILLIGRAM, QD
     Route: 065
  90. RIZATRIPTAN BENZOATE [Suspect]
     Active Substance: RIZATRIPTAN BENZOATE
     Dosage: 1 DOSAGE FORM, QD
     Route: 065
  91. RIZATRIPTAN BENZOATE [Suspect]
     Active Substance: RIZATRIPTAN BENZOATE
     Route: 065
  92. RIZATRIPTAN BENZOATE [Suspect]
     Active Substance: RIZATRIPTAN BENZOATE
     Dosage: 10 MG, 1X/DAY
     Route: 065
  93. RIZATRIPTAN BENZOATE [Suspect]
     Active Substance: RIZATRIPTAN BENZOATE
     Route: 065
  94. RIZATRIPTAN BENZOATE [Suspect]
     Active Substance: RIZATRIPTAN BENZOATE
  95. ALBUTEROL SULFATE [Suspect]
     Active Substance: ALBUTEROL SULFATE
     Dosage: 1 DOSAGE FORM, QD
     Route: 065
  96. ALBUTEROL SULFATE [Suspect]
     Active Substance: ALBUTEROL SULFATE
     Route: 065
  97. ALBUTEROL SULFATE [Suspect]
     Active Substance: ALBUTEROL SULFATE
     Dosage: 1 DOSAGE FORM, QID
     Route: 065
  98. ALBUTEROL SULFATE [Suspect]
     Active Substance: ALBUTEROL SULFATE
     Route: 065
  99. ALBUTEROL SULFATE [Suspect]
     Active Substance: ALBUTEROL SULFATE
     Dosage: 4 DF, 1X/DAY (METORED DOSE AEROSOL)
     Route: 065
  100. DEXAMETHASONE [Suspect]
     Active Substance: DEXAMETHASONE
     Indication: Migraine
     Dosage: 1 DF, 1X/DAY
     Route: 048
     Dates: start: 20180618, end: 20180618
  101. DEXAMETHASONE [Suspect]
     Active Substance: DEXAMETHASONE
     Dosage: 2 MILLIGRAM, QD
     Route: 048
  102. DEXAMETHASONE [Suspect]
     Active Substance: DEXAMETHASONE
     Route: 048
  103. DEXAMETHASONE [Suspect]
     Active Substance: DEXAMETHASONE
     Route: 048
  104. DEXAMETHASONE [Suspect]
     Active Substance: DEXAMETHASONE
     Route: 048
  105. DEXAMETHASONE [Suspect]
     Active Substance: DEXAMETHASONE
     Dosage: 1 DOSAGE FORM, QD (ORAL LIQUID)
  106. DEXAMETHASONE [Suspect]
     Active Substance: DEXAMETHASONE
     Dosage: 2 MG (ORAL LIQUID)
  107. MORPHINE HYDROCHLORIDE \SCOPOLAMINE HYDROBROMIDE \SPARTEINE SULFATE [Suspect]
     Active Substance: MORPHINE HYDROCHLORIDE\SCOPOLAMINE HYDROBROMIDE\SPARTEINE SULFATE
     Indication: Migraine
     Route: 065
  108. SCOPOLAMINE HYDROBROMIDE [Suspect]
     Active Substance: SCOPOLAMINE HYDROBROMIDE
     Route: 065
  109. SCOPOLAMINE HYDROBROMIDE [Suspect]
     Active Substance: SCOPOLAMINE HYDROBROMIDE
     Dosage: 1 DF, DAILY
  110. SCOPOLAMINE HYDROBROMIDE [Suspect]
     Active Substance: SCOPOLAMINE HYDROBROMIDE
     Dosage: 2 DF, 1X/DAY
  111. SCOPOLAMINE HYDROBROMIDE [Suspect]
     Active Substance: SCOPOLAMINE HYDROBROMIDE
     Dosage: 1 DF, 2X/DAY
  112. SCOPOLAMINE HYDROBROMIDE [Suspect]
     Active Substance: SCOPOLAMINE HYDROBROMIDE
  113. SCOPOLAMINE HYDROBROMIDE [Suspect]
     Active Substance: SCOPOLAMINE HYDROBROMIDE
  114. SCOPOLAMINE HYDROBROMIDE [Suspect]
     Active Substance: SCOPOLAMINE HYDROBROMIDE
  115. ACETAMINOPHEN\BUTYLSCOPOLAMINE BROMIDE [Suspect]
     Active Substance: ACETAMINOPHEN\BUTYLSCOPOLAMINE BROMIDE
     Indication: Migraine
     Route: 065
  116. ACETAMINOPHEN\BUTYLSCOPOLAMINE BROMIDE [Suspect]
     Active Substance: ACETAMINOPHEN\BUTYLSCOPOLAMINE BROMIDE
     Route: 065
  117. ACETAMINOPHEN\BUTYLSCOPOLAMINE BROMIDE [Suspect]
     Active Substance: ACETAMINOPHEN\BUTYLSCOPOLAMINE BROMIDE
     Route: 065
  118. BOTULINUM TOXIN TYPE A [Suspect]
     Active Substance: BOTULINUM TOXIN TYPE A
     Route: 065
     Dates: start: 201804, end: 202103
  119. BOTULINUM TOXIN TYPE A [Suspect]
     Active Substance: BOTULINUM TOXIN TYPE A
     Route: 030
  120. BOTULINUM TOXIN TYPE A [Suspect]
     Active Substance: BOTULINUM TOXIN TYPE A
     Route: 030
     Dates: start: 2020
  121. BOTULINUM TOXIN TYPE A [Suspect]
     Active Substance: BOTULINUM TOXIN TYPE A
     Route: 065
  122. BOTULINUM TOXIN TYPE A [Suspect]
     Active Substance: BOTULINUM TOXIN TYPE A
     Route: 030
  123. BOTULINUM TOXIN TYPE A [Suspect]
     Active Substance: BOTULINUM TOXIN TYPE A
     Route: 065
     Dates: start: 2020
  124. BOTULINUM TOXIN TYPE A [Suspect]
     Active Substance: BOTULINUM TOXIN TYPE A
     Route: 065
  125. BOTULINUM TOXIN TYPE A [Suspect]
     Active Substance: BOTULINUM TOXIN TYPE A
     Route: 065
  126. BOTULINUM TOXIN TYPE A [Suspect]
     Active Substance: BOTULINUM TOXIN TYPE A
     Route: 030
  127. BOTULINUM TOXIN TYPE A [Suspect]
     Active Substance: BOTULINUM TOXIN TYPE A
     Dates: start: 20140612, end: 20140813
  128. BOTULINUM TOXIN TYPE A [Suspect]
     Active Substance: BOTULINUM TOXIN TYPE A
     Dates: start: 20140813, end: 20141010
  129. BOTULINUM TOXIN TYPE A [Suspect]
     Active Substance: BOTULINUM TOXIN TYPE A
     Dates: start: 20141113, end: 20150102
  130. BOTULINUM TOXIN TYPE A [Suspect]
     Active Substance: BOTULINUM TOXIN TYPE A
     Dates: start: 20150121, end: 20150323
  131. BOTULINUM TOXIN TYPE A [Suspect]
     Active Substance: BOTULINUM TOXIN TYPE A
     Dates: start: 20150506, end: 20150703
  132. BOTULINUM TOXIN TYPE A [Suspect]
     Active Substance: BOTULINUM TOXIN TYPE A
     Dates: start: 20151212, end: 20160609
  133. BOTULINUM TOXIN TYPE A [Suspect]
     Active Substance: BOTULINUM TOXIN TYPE A
     Dates: start: 20160609, end: 20160609
  134. BOTULINUM TOXIN TYPE A [Suspect]
     Active Substance: BOTULINUM TOXIN TYPE A
     Dates: start: 20170505, end: 20170505
  135. BOTULINUM TOXIN TYPE A [Suspect]
     Active Substance: BOTULINUM TOXIN TYPE A
     Dates: start: 20180316, end: 20180316
  136. BOTULINUM TOXIN TYPE A [Suspect]
     Active Substance: BOTULINUM TOXIN TYPE A
     Dates: start: 20190304, end: 20190304
  137. BOTULINUM TOXIN TYPE A [Suspect]
     Active Substance: BOTULINUM TOXIN TYPE A
     Dates: start: 20190816, end: 20190816
  138. CLARITHROMYCIN [Suspect]
     Active Substance: CLARITHROMYCIN
     Route: 065
  139. CLARITHROMYCIN [Suspect]
     Active Substance: CLARITHROMYCIN
     Indication: Migraine
     Dosage: 1 DOSAGE FORM, BID
     Route: 065
     Dates: start: 20130130, end: 20130130
  140. CLARITHROMYCIN [Suspect]
     Active Substance: CLARITHROMYCIN
     Route: 065
     Dates: start: 20130130
  141. CLARITHROMYCIN [Suspect]
     Active Substance: CLARITHROMYCIN
     Dosage: 1 DOSAGE FORM, QD
     Route: 065
     Dates: start: 20130130
  142. CLARITHROMYCIN [Suspect]
     Active Substance: CLARITHROMYCIN
     Dosage: 2 DOSAGE FORM, QD
     Route: 065
     Dates: start: 20130130
  143. CLARITHROMYCIN [Suspect]
     Active Substance: CLARITHROMYCIN
     Dosage: 1 DF, 1X/DAY
     Dates: start: 20130130
  144. CLARITHROMYCIN [Suspect]
     Active Substance: CLARITHROMYCIN
     Dosage: 1 DOSAGE FORM, QD
     Route: 065
  145. INDOMETHACIN [Suspect]
     Active Substance: INDOMETHACIN
     Indication: Migraine
     Dosage: 1 DF, 2X/DAY (1 DOSAGE FORMS, 12 HR)
     Route: 054
     Dates: start: 20121017, end: 20121130
  146. INDOMETHACIN [Suspect]
     Active Substance: INDOMETHACIN
     Dosage: 1 DOSAGE FORM, BID (1 DOSAGE FORMS, 12 HR)
     Route: 054
     Dates: start: 20130102, end: 20130102
  147. INDOMETHACIN [Suspect]
     Active Substance: INDOMETHACIN
     Dosage: 1 DF, 2X/DAY (1 DOSAGE FORMS, 12 HR)
     Route: 054
     Dates: start: 20130306, end: 20130306
  148. INDOMETHACIN [Suspect]
     Active Substance: INDOMETHACIN
     Dosage: 1 DF, 2X/DAY (1 DOSAGE FORMS, 12 HR)
     Route: 054
     Dates: start: 20130430, end: 20130620
  149. INDOMETHACIN [Suspect]
     Active Substance: INDOMETHACIN
     Dosage: 1 DF, 2X/DAY (1 DOSAGE FORMS, 12 HR)
     Route: 054
     Dates: start: 20130523, end: 20130707
  150. INDOMETHACIN [Suspect]
     Active Substance: INDOMETHACIN
     Route: 054
  151. INDOMETHACIN [Suspect]
     Active Substance: INDOMETHACIN
     Dosage: UNK UNK, BID
     Route: 065
  152. INDOMETHACIN [Suspect]
     Active Substance: INDOMETHACIN
     Dosage: 1 DF, 2X/DAY (1 DOSAGE FORMS, 12 HR)
     Route: 054
     Dates: start: 20130731, end: 20130731
  153. INDOMETHACIN [Suspect]
     Active Substance: INDOMETHACIN
     Dosage: 1 DF, 2X/DAY (1 DOSAGE FORMS, 12 HR)
     Route: 054
     Dates: start: 20130925, end: 20130925
  154. INDOMETHACIN [Suspect]
     Active Substance: INDOMETHACIN
     Dosage: 1 DF, 2X/DAY (1 DOSAGE FORMS, 12 HR)
     Route: 054
     Dates: start: 20131114, end: 20131114
  155. INDOMETHACIN [Suspect]
     Active Substance: INDOMETHACIN
     Dosage: 1 DF, 2X/DAY (1 DOSAGE FORMS, 12 HR)
     Route: 054
     Dates: start: 20140108, end: 20140108
  156. INDOMETHACIN [Suspect]
     Active Substance: INDOMETHACIN
     Dosage: 1 DF, 2X/DAY(1 DOSAGE FORMS, 12 HR)
     Route: 054
     Dates: start: 20140325, end: 20140325
  157. INDOMETHACIN [Suspect]
     Active Substance: INDOMETHACIN
     Dosage: 1 DF, 2X/DAY (1 DOSAGE FORMS, 12 HR)
     Route: 054
     Dates: start: 20140325, end: 20140325
  158. INDOMETHACIN [Suspect]
     Active Substance: INDOMETHACIN
     Dosage: 1 DF, 2X/DAY (1 DOSAGE FORMS, 12 HR)
     Route: 054
     Dates: start: 20140612, end: 20140813
  159. INDOMETHACIN [Suspect]
     Active Substance: INDOMETHACIN
     Dosage: 1 DF, 2X/DAY (1 DOSAGE FORMS, 12 HR)
     Route: 054
     Dates: start: 20140612, end: 20140612
  160. INDOMETHACIN [Suspect]
     Active Substance: INDOMETHACIN
     Dosage: 1 DF, 2X/DAY (1 DOSAGE FORMS, 12 HR)
     Route: 054
     Dates: start: 20140813, end: 20140813
  161. INDOMETHACIN [Suspect]
     Active Substance: INDOMETHACIN
     Dosage: 1 DF, 2X/DAY (1 DOSAGE FORMS, 12 HR)
     Route: 054
     Dates: start: 20140813, end: 20140813
  162. INDOMETHACIN [Suspect]
     Active Substance: INDOMETHACIN
     Dosage: 1 DF, 2X/DAY (1 DOSAGE FORMS, 12 HR)
     Route: 054
     Dates: start: 20141103, end: 20141103
  163. INDOMETHACIN [Suspect]
     Active Substance: INDOMETHACIN
     Dosage: 1 DF, 2X/DAY (1 DOSAGE FORMS, 12 HR)
     Route: 054
     Dates: start: 20141103, end: 20141103
  164. INDOMETHACIN [Suspect]
     Active Substance: INDOMETHACIN
     Dosage: 1 DF, 2X/DAY (1 DOSAGE FORMS, 12 HR)
     Route: 054
     Dates: start: 20150121, end: 20150121
  165. INDOMETHACIN [Suspect]
     Active Substance: INDOMETHACIN
     Dosage: 1 DF, 2X/DAY (1 DOSAGE FORMS, 12 HR)
     Route: 054
     Dates: start: 20151216, end: 20151216
  166. INDOMETHACIN [Suspect]
     Active Substance: INDOMETHACIN
     Dosage: 1 DF, 2X/DAY (1 DOSAGE FORMS, 12 HR)
     Route: 054
     Dates: start: 20161116, end: 20161116
  167. INDOMETHACIN [Suspect]
     Active Substance: INDOMETHACIN
     Dosage: 1 DF, 2X/DAY (1 DOSAGE FORMS, 12 HR)
     Route: 054
     Dates: start: 20170505, end: 20170505
  168. INDOMETHACIN [Suspect]
     Active Substance: INDOMETHACIN
     Dosage: 1 DF, 2X/DAY (1 DOSAGE FORMS, 12 HR)
     Route: 054
     Dates: start: 20180919, end: 20180919
  169. INDOMETHACIN [Suspect]
     Active Substance: INDOMETHACIN
     Dosage: 1 DF, 2X/DAY (1 DOSAGE FORMS, 12 HR)
     Route: 054
     Dates: start: 20190304, end: 20190404
  170. INDOMETHACIN [Suspect]
     Active Substance: INDOMETHACIN
     Dosage: 1 DF, 2X/DAY (1 DOSAGE FORMS, 12 HR)
     Route: 054
     Dates: start: 20200213
  171. INDOMETHACIN [Suspect]
     Active Substance: INDOMETHACIN
     Dosage: 1 DF, BID, 2 EVERY 1 DAYS (1 DOSAGE FORMS, 12 HR)
     Route: 054
  172. INDOMETHACIN [Suspect]
     Active Substance: INDOMETHACIN
     Route: 054
  173. INDOMETHACIN [Suspect]
     Active Substance: INDOMETHACIN
  174. INDOMETHACIN [Suspect]
     Active Substance: INDOMETHACIN
     Route: 054
  175. INDOMETHACIN [Suspect]
     Active Substance: INDOMETHACIN
     Route: 054
  176. INDOMETHACIN [Suspect]
     Active Substance: INDOMETHACIN
     Dosage: 1 DOSAGE FORM, Q12H
     Route: 054
  177. INDOMETHACIN [Suspect]
     Active Substance: INDOMETHACIN
     Route: 054
  178. INDOMETHACIN [Suspect]
     Active Substance: INDOMETHACIN
     Route: 054
  179. INDOMETHACIN [Suspect]
     Active Substance: INDOMETHACIN
     Route: 054
  180. INDOMETHACIN [Suspect]
     Active Substance: INDOMETHACIN
     Route: 054
  181. INDOMETHACIN [Suspect]
     Active Substance: INDOMETHACIN
     Route: 054
  182. INDOMETHACIN [Suspect]
     Active Substance: INDOMETHACIN
     Route: 054
  183. INDOMETHACIN [Suspect]
     Active Substance: INDOMETHACIN
     Route: 054
  184. INDOMETHACIN [Suspect]
     Active Substance: INDOMETHACIN
     Route: 054
  185. INDOMETHACIN [Suspect]
     Active Substance: INDOMETHACIN
     Route: 054
  186. INDOMETHACIN [Suspect]
     Active Substance: INDOMETHACIN
     Route: 054
  187. INDOMETHACIN [Suspect]
     Active Substance: INDOMETHACIN
     Route: 054
  188. INDOMETHACIN [Suspect]
     Active Substance: INDOMETHACIN
     Route: 054
  189. INDOMETHACIN [Suspect]
     Active Substance: INDOMETHACIN
     Route: 054
  190. INDOMETHACIN [Suspect]
     Active Substance: INDOMETHACIN
     Route: 054
  191. INDOMETHACIN [Suspect]
     Active Substance: INDOMETHACIN
     Route: 054
  192. INDOMETHACIN [Suspect]
     Active Substance: INDOMETHACIN
     Route: 054
  193. INDOMETHACIN [Suspect]
     Active Substance: INDOMETHACIN
     Route: 054
  194. INDOMETHACIN [Suspect]
     Active Substance: INDOMETHACIN
     Route: 054
  195. MOMETASONE FUROATE [Suspect]
     Active Substance: MOMETASONE FUROATE
     Indication: Migraine
     Dosage: 2 DOSAGE FORM, BID
     Route: 055
  196. MOMETASONE FUROATE [Suspect]
     Active Substance: MOMETASONE FUROATE
     Dosage: 2 DOSAGE FORM, BID
     Route: 055
  197. MOMETASONE FUROATE [Suspect]
     Active Substance: MOMETASONE FUROATE
     Dosage: 2 DOSAGE FORM, Q8H
     Route: 065
  198. MOMETASONE FUROATE [Suspect]
     Active Substance: MOMETASONE FUROATE
     Dosage: 2 DOSAGE FORM, TID
     Route: 065
  199. MOMETASONE FUROATE [Suspect]
     Active Substance: MOMETASONE FUROATE
     Route: 065
  200. MOMETASONE FUROATE [Suspect]
     Active Substance: MOMETASONE FUROATE
     Route: 065
  201. MOMETASONE FUROATE [Suspect]
     Active Substance: MOMETASONE FUROATE
     Route: 065
  202. MOMETASONE FUROATE [Suspect]
     Active Substance: MOMETASONE FUROATE
     Dosage: 2 DOSAGE FORM, BID
     Route: 065
  203. MOMETASONE FUROATE [Suspect]
     Active Substance: MOMETASONE FUROATE
     Route: 065
  204. MOMETASONE FUROATE [Suspect]
     Active Substance: MOMETASONE FUROATE
     Route: 065
  205. MOMETASONE FUROATE [Suspect]
     Active Substance: MOMETASONE FUROATE
     Dosage: 6 DOSAGE FORM, TID
     Route: 065
  206. RABEPRAZOLE SODIUM [Suspect]
     Active Substance: RABEPRAZOLE SODIUM
     Indication: Migraine
     Dosage: 1 DF, 2X/DAY
     Route: 065
  207. RABEPRAZOLE SODIUM [Suspect]
     Active Substance: RABEPRAZOLE SODIUM
     Dosage: 1 DF, 2X/DAY
     Route: 065
  208. RABEPRAZOLE SODIUM [Suspect]
     Active Substance: RABEPRAZOLE SODIUM
     Dosage: 1 DF, 2X/DAY
     Route: 065
  209. RABEPRAZOLE SODIUM [Suspect]
     Active Substance: RABEPRAZOLE SODIUM
     Dosage: 1 DF, 2X/DAY
     Route: 065
  210. RABEPRAZOLE SODIUM [Suspect]
     Active Substance: RABEPRAZOLE SODIUM
     Dosage: 1 DF, 2X/DAY
     Route: 065
  211. RABEPRAZOLE SODIUM [Suspect]
     Active Substance: RABEPRAZOLE SODIUM
     Dosage: 1 DF, 2X/DAY
     Route: 065
  212. RABEPRAZOLE SODIUM [Suspect]
     Active Substance: RABEPRAZOLE SODIUM
     Dosage: 1 DF, 2X/DAY
     Route: 065
  213. RABEPRAZOLE SODIUM [Suspect]
     Active Substance: RABEPRAZOLE SODIUM
     Dosage: 1 DF, 2X/DAY
     Route: 065
  214. RABEPRAZOLE SODIUM [Suspect]
     Active Substance: RABEPRAZOLE SODIUM
     Dosage: 1 DF, 2X/DAY
     Route: 065
  215. RABEPRAZOLE SODIUM [Suspect]
     Active Substance: RABEPRAZOLE SODIUM
     Dosage: 1 DF, 2X/DAY
     Route: 065
  216. RABEPRAZOLE SODIUM [Suspect]
     Active Substance: RABEPRAZOLE SODIUM
     Dosage: 1 DF, 2X/DAY
     Route: 065
  217. RABEPRAZOLE SODIUM [Suspect]
     Active Substance: RABEPRAZOLE SODIUM
     Dosage: 1 DF, 2X/DAY
     Route: 065
  218. RABEPRAZOLE SODIUM [Suspect]
     Active Substance: RABEPRAZOLE SODIUM
     Dosage: 1 DF, 2X/DAY
     Route: 065
  219. RABEPRAZOLE SODIUM [Suspect]
     Active Substance: RABEPRAZOLE SODIUM
     Dosage: 1 DF, 2X/DAY
     Route: 065
  220. RABEPRAZOLE SODIUM [Suspect]
     Active Substance: RABEPRAZOLE SODIUM
     Dosage: 1 DF, 2X/DAY
     Route: 065
  221. RABEPRAZOLE SODIUM [Suspect]
     Active Substance: RABEPRAZOLE SODIUM
     Dosage: 1 DF, 2X/DAY
     Route: 065
  222. RABEPRAZOLE SODIUM [Suspect]
     Active Substance: RABEPRAZOLE SODIUM
     Dosage: 1 DF, 2X/DAY
     Route: 065
  223. RABEPRAZOLE SODIUM [Suspect]
     Active Substance: RABEPRAZOLE SODIUM
     Dosage: 1 DF, 2X/DAY
     Route: 065
  224. RABEPRAZOLE SODIUM [Suspect]
     Active Substance: RABEPRAZOLE SODIUM
     Dosage: 1 DF, 2X/DAY
     Route: 065
  225. RABEPRAZOLE SODIUM [Suspect]
     Active Substance: RABEPRAZOLE SODIUM
     Dosage: 1 DF, 2X/DAY
     Route: 065
  226. RABEPRAZOLE SODIUM [Suspect]
     Active Substance: RABEPRAZOLE SODIUM
     Dosage: 1 DF, 2X/DAY
     Route: 065
  227. RABEPRAZOLE SODIUM [Suspect]
     Active Substance: RABEPRAZOLE SODIUM
     Dosage: 1 DF, 2X/DAY
     Route: 065
  228. RABEPRAZOLE SODIUM [Suspect]
     Active Substance: RABEPRAZOLE SODIUM
     Dosage: 1 DF, 2X/DAY
     Route: 065
  229. RABEPRAZOLE SODIUM [Suspect]
     Active Substance: RABEPRAZOLE SODIUM
     Dosage: 1 DF, 2X/DAY
     Route: 065
  230. RABEPRAZOLE SODIUM [Suspect]
     Active Substance: RABEPRAZOLE SODIUM
     Dosage: 1 DF, 2X/DAY
     Route: 065
  231. CLOTRIMAZOLE [Suspect]
     Active Substance: CLOTRIMAZOLE
     Indication: Migraine
     Route: 065
  232. SUMATRIPTAN [Suspect]
     Active Substance: SUMATRIPTAN
     Indication: Migraine
     Route: 065
  233. SUMATRIPTAN [Suspect]
     Active Substance: SUMATRIPTAN
     Route: 065
  234. SUMATRIPTAN [Suspect]
     Active Substance: SUMATRIPTAN
  235. PREDNISONE [Suspect]
     Active Substance: PREDNISONE
     Indication: Migraine
     Dosage: 2 DOSAGE FORM, QD
     Route: 065
  236. PREDNISONE [Suspect]
     Active Substance: PREDNISONE
     Route: 065
  237. TRIMETHOPRIM [Suspect]
     Active Substance: TRIMETHOPRIM
     Indication: Migraine
     Dosage: 2 DOSAGE FORM, TID
     Route: 065
  238. TRIMETHOPRIM [Suspect]
     Active Substance: TRIMETHOPRIM
     Dosage: 6 DOSAGE FORM, QD
     Route: 065
  239. TRIMETHOPRIM [Suspect]
     Active Substance: TRIMETHOPRIM
     Route: 065
  240. TRIMETHOPRIM [Suspect]
     Active Substance: TRIMETHOPRIM
     Route: 048
  241. ZOPICLONE [Suspect]
     Active Substance: ZOPICLONE
     Indication: Migraine
     Route: 065
  242. ZOPICLONE [Suspect]
     Active Substance: ZOPICLONE
     Route: 065
  243. ZOPICLONE [Suspect]
     Active Substance: ZOPICLONE
     Route: 065
  244. ZOPICLONE [Suspect]
     Active Substance: ZOPICLONE
     Dosage: 1 DF, 1X/DAY
     Route: 065
     Dates: start: 20120512, end: 20120707
  245. ZOPICLONE [Suspect]
     Active Substance: ZOPICLONE
     Dosage: 1 DF, 1 EVERY 1 DAYS (1 DOSAGE FORMS, 1 D)
     Route: 065
     Dates: start: 20121017, end: 20121130
  246. ZOPICLONE [Suspect]
     Active Substance: ZOPICLONE
     Dosage: 1 DF, 1X/DAY
     Route: 065
     Dates: start: 20130102, end: 20130225
  247. ZOPICLONE [Suspect]
     Active Substance: ZOPICLONE
     Dosage: 1 DF, 1X/DAY
     Route: 065
     Dates: start: 20130306, end: 20130411
  248. ZOPICLONE [Suspect]
     Active Substance: ZOPICLONE
     Dosage: 1 DF, 1X/DAY
     Route: 065
     Dates: start: 20130731, end: 20130920
  249. ZOPICLONE [Suspect]
     Active Substance: ZOPICLONE
     Dosage: 1 DF, 1X/DAY
     Route: 065
     Dates: start: 20130925, end: 20131130
  250. ZOPICLONE [Suspect]
     Active Substance: ZOPICLONE
     Dosage: 1 DF, 1X/DAY
     Route: 065
  251. ZOPICLONE [Suspect]
     Active Substance: ZOPICLONE
     Dosage: 1 DF, 1X/DAY
     Route: 065
     Dates: start: 20131224, end: 20131224
  252. ZOPICLONE [Suspect]
     Active Substance: ZOPICLONE
     Dosage: 1 DF, 1X/DAY
     Route: 065
     Dates: start: 20140108, end: 20140310
  253. ZOPICLONE [Suspect]
     Active Substance: ZOPICLONE
     Dosage: 1 DF, 1X/DAY
     Route: 065
     Dates: start: 20140325, end: 20140521
  254. ZOPICLONE [Suspect]
     Active Substance: ZOPICLONE
     Dosage: 1 DF, 1X/DAY
     Route: 065
     Dates: start: 20140612, end: 20140728
  255. ZOPICLONE [Suspect]
     Active Substance: ZOPICLONE
     Dosage: 1 DF, 1X/DAY
     Route: 065
     Dates: start: 20140813, end: 20141010
  256. ZOPICLONE [Suspect]
     Active Substance: ZOPICLONE
     Dosage: 1 DF, 1X/DAY
     Route: 065
     Dates: start: 20141103, end: 20150102
  257. ZOPICLONE [Suspect]
     Active Substance: ZOPICLONE
     Dosage: 1 DF, 1X/DAY
     Route: 065
     Dates: start: 20150113, end: 20151207
  258. ZOPICLONE [Suspect]
     Active Substance: ZOPICLONE
     Dosage: 1 DF, 1X/DAY
     Route: 065
     Dates: start: 20150121, end: 20150424
  259. ZOPICLONE [Suspect]
     Active Substance: ZOPICLONE
     Dosage: 1 DF, 1X/DAY
     Route: 065
     Dates: start: 20150506, end: 20150703
  260. ZOPICLONE [Suspect]
     Active Substance: ZOPICLONE
     Dosage: 1 DF, 1X/DAY
     Route: 065
     Dates: start: 20151216, end: 20160226
  261. ZOPICLONE [Suspect]
     Active Substance: ZOPICLONE
     Dosage: 1 DF, 1X/DAY
     Route: 065
     Dates: start: 20160323, end: 20160323
  262. ZOPICLONE [Suspect]
     Active Substance: ZOPICLONE
     Dosage: 1 DF, 1X/DAY
     Route: 065
     Dates: start: 20160418, end: 20160418
  263. ZOPICLONE [Suspect]
     Active Substance: ZOPICLONE
     Dosage: 1 DF, 1X/DAY
     Route: 065
     Dates: start: 20160609, end: 20161027
  264. ZOPICLONE [Suspect]
     Active Substance: ZOPICLONE
     Dosage: 1 DF, 1X/DAY
     Route: 065
     Dates: start: 20161116, end: 20170116
  265. ZOPICLONE [Suspect]
     Active Substance: ZOPICLONE
     Dosage: 1 DF, 1X/DAY
     Route: 065
     Dates: start: 20170118, end: 20170410
  266. ZOPICLONE [Suspect]
     Active Substance: ZOPICLONE
     Dosage: 1 DF, 1X/DAY
     Route: 065
  267. ZOPICLONE [Suspect]
     Active Substance: ZOPICLONE
     Dosage: 1 DF, 1X/DAY
     Route: 065
  268. ZOPICLONE [Suspect]
     Active Substance: ZOPICLONE
     Dosage: 1 DF, 1X/DAY
     Route: 065
  269. ZOPICLONE [Suspect]
     Active Substance: ZOPICLONE
     Dosage: 1 DF, 1X/DAY
     Route: 065
  270. ZOPICLONE [Suspect]
     Active Substance: ZOPICLONE
     Dosage: 1 DF, 1X/DAY
     Route: 065
  271. ZOPICLONE [Suspect]
     Active Substance: ZOPICLONE
     Dosage: 1 DF, 1X/DAY
     Route: 065
  272. ZOPICLONE [Suspect]
     Active Substance: ZOPICLONE
     Dosage: 1 DF, 1X/DAY
     Route: 065
  273. ZOPICLONE [Suspect]
     Active Substance: ZOPICLONE
     Dosage: 1 DF, 1X/DAY
     Route: 065
  274. ZOPICLONE [Suspect]
     Active Substance: ZOPICLONE
     Dosage: 1 DF, 1X/DAY
     Route: 065
  275. ZOPICLONE [Suspect]
     Active Substance: ZOPICLONE
     Dosage: 1 DF, 1X/DAY
     Route: 065
  276. ZOPICLONE [Suspect]
     Active Substance: ZOPICLONE
     Dosage: 1 DF, 1X/DAY
     Route: 065
  277. ZOPICLONE [Suspect]
     Active Substance: ZOPICLONE
     Dosage: 1 DF, 1X/DAY
     Route: 065
  278. ZOPICLONE [Suspect]
     Active Substance: ZOPICLONE
     Dosage: 1 DF, 1X/DAY
     Route: 065
  279. ZOPICLONE [Suspect]
     Active Substance: ZOPICLONE
     Dosage: 1 DF, 1X/DAY
     Route: 065
  280. ZOPICLONE [Suspect]
     Active Substance: ZOPICLONE
     Dosage: 1 DF, 1X/DAY
     Route: 065
  281. ZOPICLONE [Suspect]
     Active Substance: ZOPICLONE
     Dosage: 1 DF, 1X/DAY
     Route: 065
  282. ZOPICLONE [Suspect]
     Active Substance: ZOPICLONE
     Dosage: 1 DF, 1X/DAY
     Route: 065
  283. ZOPICLONE [Suspect]
     Active Substance: ZOPICLONE
     Dosage: 1 DF, 1X/DAY
     Route: 065
  284. ZOPICLONE [Suspect]
     Active Substance: ZOPICLONE
     Dosage: 1 DF, 1X/DAY
     Route: 065
  285. ZOPICLONE [Suspect]
     Active Substance: ZOPICLONE
     Dosage: 1 DF, 1X/DAY
     Route: 065
  286. ZOPICLONE [Suspect]
     Active Substance: ZOPICLONE
     Dosage: 1 DF, 1X/DAY
     Route: 065
  287. ZOPICLONE [Suspect]
     Active Substance: ZOPICLONE
     Dosage: 1 DF, 1X/DAY
     Route: 065
  288. ZOPICLONE [Suspect]
     Active Substance: ZOPICLONE
     Dosage: 1 DF, 1X/DAY
     Route: 065
  289. ZOPICLONE [Suspect]
     Active Substance: ZOPICLONE
     Dosage: 1 DF, 1X/DAY
     Route: 065
  290. ZOPICLONE [Suspect]
     Active Substance: ZOPICLONE
     Dosage: 1 DF, 1X/DAY
     Route: 065
  291. ZOPICLONE [Suspect]
     Active Substance: ZOPICLONE
     Dosage: 1 DF, 1X/DAY
     Route: 065
  292. ZOPICLONE [Suspect]
     Active Substance: ZOPICLONE
     Dosage: 1 DF, 1X/DAY
     Route: 065
  293. ZOPICLONE [Suspect]
     Active Substance: ZOPICLONE
     Route: 065
  294. ZOPICLONE [Suspect]
     Active Substance: ZOPICLONE
     Route: 065
  295. RABEPRAZOLE SODIUM [Suspect]
     Active Substance: RABEPRAZOLE SODIUM
     Indication: Migraine
     Dosage: 1 DOSAGE FORM, BID
     Route: 048
  296. RABEPRAZOLE SODIUM [Suspect]
     Active Substance: RABEPRAZOLE SODIUM
     Route: 065
  297. RABEPRAZOLE SODIUM [Suspect]
     Active Substance: RABEPRAZOLE SODIUM
     Route: 065
  298. RABEPRAZOLE SODIUM [Suspect]
     Active Substance: RABEPRAZOLE SODIUM
     Dosage: 1 DOSAGE FORM, BID (2 EVERY 1 DAYS)
     Route: 048
  299. RABEPRAZOLE SODIUM [Suspect]
     Active Substance: RABEPRAZOLE SODIUM
     Route: 065
  300. RABEPRAZOLE SODIUM [Suspect]
     Active Substance: RABEPRAZOLE SODIUM
     Route: 065
  301. RABEPRAZOLE SODIUM [Suspect]
     Active Substance: RABEPRAZOLE SODIUM
     Dosage: 1 DOSAGE FORM, BID (1 EVERY 12 HOURS)
     Route: 065
  302. RABEPRAZOLE SODIUM [Suspect]
     Active Substance: RABEPRAZOLE SODIUM
     Dosage: 2 DOSAGE FORM, QD (1 EVERY 1 DAYS)
     Route: 065
  303. RABEPRAZOLE SODIUM [Suspect]
     Active Substance: RABEPRAZOLE SODIUM
     Route: 065
  304. CODEINE SULFATE [Suspect]
     Active Substance: CODEINE SULFATE
     Indication: Migraine
     Route: 065
  305. CODEINE SULFATE [Suspect]
     Active Substance: CODEINE SULFATE
     Route: 065
  306. CLOTRIMAZOLE\FLUCONAZOLE [Suspect]
     Active Substance: CLOTRIMAZOLE\FLUCONAZOLE
     Route: 065
  307. CLOTRIMAZOLE\FLUCONAZOLE [Suspect]
     Active Substance: CLOTRIMAZOLE\FLUCONAZOLE
     Route: 065
  308. RABEPRAZOLE [Suspect]
     Active Substance: RABEPRAZOLE
     Indication: Migraine
     Dosage: 1 DOSAGE FORM, BID (1 DOSAGE FORM ONCE EVERY 12
     Route: 065
     Dates: start: 20120515, end: 20120614
  309. RABEPRAZOLE [Suspect]
     Active Substance: RABEPRAZOLE
     Route: 065
  310. RABEPRAZOLE [Suspect]
     Active Substance: RABEPRAZOLE
     Route: 065
  311. RABEPRAZOLE [Suspect]
     Active Substance: RABEPRAZOLE
     Dosage: 2 DOSAGE FORM, BID
     Route: 065
  312. RABEPRAZOLE [Suspect]
     Active Substance: RABEPRAZOLE
     Dosage: 1 DOSAGE FORM, BID
     Route: 048
     Dates: start: 20120731, end: 20120922
  313. RABEPRAZOLE [Suspect]
     Active Substance: RABEPRAZOLE
     Route: 065
  314. RABEPRAZOLE [Suspect]
     Active Substance: RABEPRAZOLE
     Route: 065
  315. RABEPRAZOLE [Suspect]
     Active Substance: RABEPRAZOLE
     Dosage: 1 DF, 2X/DAY
     Route: 048
     Dates: start: 20121017, end: 20121108
  316. RABEPRAZOLE [Suspect]
     Active Substance: RABEPRAZOLE
     Dosage: 1 DF, 2X/DAY
     Route: 048
     Dates: start: 20121017, end: 20121108
  317. RABEPRAZOLE [Suspect]
     Active Substance: RABEPRAZOLE
     Dosage: 1 DF, 2X/DAY
     Route: 048
     Dates: start: 20130102, end: 20130129
  318. RABEPRAZOLE [Suspect]
     Active Substance: RABEPRAZOLE
     Dosage: 1 DF, 2X/DAY
     Route: 048
     Dates: start: 20130306, end: 20130311
  319. RABEPRAZOLE [Suspect]
     Active Substance: RABEPRAZOLE
     Dosage: 1 DF, 2X/DAY
     Route: 048
     Dates: start: 20130430, end: 20130715
  320. RABEPRAZOLE [Suspect]
     Active Substance: RABEPRAZOLE
     Dosage: 1 DF, 2X/DAY
     Route: 048
     Dates: start: 20130731, end: 20130827
  321. RABEPRAZOLE [Suspect]
     Active Substance: RABEPRAZOLE
     Dosage: 1 DF, 2X/DAY
     Route: 048
     Dates: start: 20130925, end: 20131130
  322. RABEPRAZOLE [Suspect]
     Active Substance: RABEPRAZOLE
     Dosage: 1 DF, 2X/DAY
     Route: 048
     Dates: start: 20131224, end: 20131224
  323. RABEPRAZOLE [Suspect]
     Active Substance: RABEPRAZOLE
     Dosage: 1 DF, 2X/DAY
     Route: 048
     Dates: start: 20140108, end: 20140310
  324. RABEPRAZOLE [Suspect]
     Active Substance: RABEPRAZOLE
     Dosage: 1 DF, 2X/DAY
     Route: 048
     Dates: start: 20140205, end: 20140225
  325. RABEPRAZOLE [Suspect]
     Active Substance: RABEPRAZOLE
     Dosage: 1 DF, 2X/DAY
     Route: 048
     Dates: start: 20170505, end: 20170921
  326. RABEPRAZOLE [Suspect]
     Active Substance: RABEPRAZOLE
     Dosage: 1 DF, 2X/DAY
     Route: 048
     Dates: start: 20171018, end: 20180303
  327. RABEPRAZOLE [Suspect]
     Active Substance: RABEPRAZOLE
     Dosage: 1 DF, 2X/DAY
     Route: 048
     Dates: start: 20180316, end: 20180821
  328. RABEPRAZOLE [Suspect]
     Active Substance: RABEPRAZOLE
     Dosage: 1 DF, 2X/DAY
     Route: 048
     Dates: start: 20180919, end: 20190208
  329. RABEPRAZOLE [Suspect]
     Active Substance: RABEPRAZOLE
     Dosage: 1 DF, 2X/DAY
     Route: 048
     Dates: start: 20190304, end: 20190725
  330. RABEPRAZOLE [Suspect]
     Active Substance: RABEPRAZOLE
     Dosage: 1 DF, 2X/DAY
     Route: 048
     Dates: start: 20190816, end: 20200109
  331. RABEPRAZOLE [Suspect]
     Active Substance: RABEPRAZOLE
     Dosage: 1 DF, 2X/DAY
     Route: 048
     Dates: start: 20200213
  332. RABEPRAZOLE [Suspect]
     Active Substance: RABEPRAZOLE
     Dosage: 1 DF, 2X/DAY
     Route: 065
  333. RABEPRAZOLE [Suspect]
     Active Substance: RABEPRAZOLE
     Dosage: 1 DF, 2X/DAY
     Route: 065
  334. RABEPRAZOLE [Suspect]
     Active Substance: RABEPRAZOLE
     Dosage: 1 DF, 2X/DAY
     Route: 065
  335. RABEPRAZOLE [Suspect]
     Active Substance: RABEPRAZOLE
     Dosage: 1 DF, 2X/DAY
     Route: 065
  336. RABEPRAZOLE [Suspect]
     Active Substance: RABEPRAZOLE
     Dosage: 1 DF, 2X/DAY
     Route: 065
  337. RABEPRAZOLE [Suspect]
     Active Substance: RABEPRAZOLE
     Dosage: 1 DF, 2X/DAY
     Route: 065
  338. RABEPRAZOLE [Suspect]
     Active Substance: RABEPRAZOLE
     Dosage: 1 DF, 2X/DAY
     Route: 065
  339. RABEPRAZOLE [Suspect]
     Active Substance: RABEPRAZOLE
     Dosage: 1 DF, BID,2 EVERY 1 DAYS
     Route: 065
  340. RABEPRAZOLE [Suspect]
     Active Substance: RABEPRAZOLE
     Dosage: 2 DF, 1X/DAY (2 DOSAGE FORMS, 1 EVERY 1 DAY
     Route: 065
  341. MAXALT [Suspect]
     Active Substance: RIZATRIPTAN BENZOATE
     Indication: Migraine
     Route: 065
  342. MAXALT [Suspect]
     Active Substance: RIZATRIPTAN BENZOATE
     Dosage: 10 MILLIGRAM, QD
     Route: 065
  343. CIPROFLOXACIN LACTATE [Suspect]
     Active Substance: CIPROFLOXACIN LACTATE
     Indication: Migraine
     Route: 065
  344. CIPROFLOXACIN LACTATE [Suspect]
     Active Substance: CIPROFLOXACIN LACTATE
     Route: 065
  345. CIPROFLOXACIN LACTATE [Suspect]
     Active Substance: CIPROFLOXACIN LACTATE
     Dosage: 1 DOSAGE FORM, BID
     Route: 065
  346. CIPROFLOXACIN LACTATE [Suspect]
     Active Substance: CIPROFLOXACIN LACTATE
     Route: 065
  347. CIPROFLOXACIN LACTATE [Suspect]
     Active Substance: CIPROFLOXACIN LACTATE
     Route: 065
  348. CIPROFLOXACIN LACTATE [Suspect]
     Active Substance: CIPROFLOXACIN LACTATE
     Dosage: 1 DF, 2X/DAY (EVERY 12HRS)
     Route: 065
     Dates: start: 20170930, end: 20170930
  349. ACETAMINOPHEN [Suspect]
     Active Substance: ACETAMINOPHEN
     Indication: Arthritis
     Route: 048
  350. ACETAMINOPHEN [Suspect]
     Active Substance: ACETAMINOPHEN
     Route: 065
  351. CYMBALTA [Suspect]
     Active Substance: DULOXETINE HYDROCHLORIDE
     Dosage: 2 DOSAGE FORM, QD (1 EVERY 1 DAYS)
     Route: 065
  352. CYMBALTA [Suspect]
     Active Substance: DULOXETINE HYDROCHLORIDE
     Dosage: 1 DOSAGE FORM, QD (1 EVERY 1 DAYS)
     Route: 065
  353. CYMBALTA [Suspect]
     Active Substance: DULOXETINE HYDROCHLORIDE
     Route: 065
  354. CYMBALTA [Suspect]
     Active Substance: DULOXETINE HYDROCHLORIDE
     Route: 065
  355. CYMBALTA [Suspect]
     Active Substance: DULOXETINE HYDROCHLORIDE
     Route: 048
  356. CYMBALTA [Suspect]
     Active Substance: DULOXETINE HYDROCHLORIDE
     Dosage: UNK, DAILY
  357. CYMBALTA [Suspect]
     Active Substance: DULOXETINE HYDROCHLORIDE
  358. TRAMADOL HYDROCHLORIDE [Suspect]
     Active Substance: TRAMADOL HYDROCHLORIDE
     Indication: Migraine
     Route: 048
  359. ACETAMINOPHEN\TRAMADOL HYDROCHLORIDE [Suspect]
     Active Substance: ACETAMINOPHEN\TRAMADOL HYDROCHLORIDE
     Route: 065
  360. ACETAMINOPHEN\DIPHENHYDRAMINE HYDROCHLORIDE [Suspect]
     Active Substance: ACETAMINOPHEN\DIPHENHYDRAMINE HYDROCHLORIDE
     Route: 065
  361. AZITHROMYCIN DIHYDRATE [Suspect]
     Active Substance: AZITHROMYCIN DIHYDRATE
     Route: 065
  362. AZITHROMYCIN DIHYDRATE [Suspect]
     Active Substance: AZITHROMYCIN DIHYDRATE
  363. ACETAMINOPHEN\METOCLOPRAMIDE HYDROCHLORIDE [Suspect]
     Active Substance: ACETAMINOPHEN\METOCLOPRAMIDE HYDROCHLORIDE
     Route: 065
  364. ZOLMITRIPTAN [Suspect]
     Active Substance: ZOLMITRIPTAN
     Indication: Migraine
     Route: 048
  365. MOMETASONE FUROATE MONOHYDRATE [Suspect]
     Active Substance: MOMETASONE FUROATE MONOHYDRATE
     Indication: Migraine
     Route: 065
  366. ACETAMINOPHEN\CODEINE PHOSPHATE [Suspect]
     Active Substance: ACETAMINOPHEN\CODEINE PHOSPHATE
     Route: 065
  367. AZITHROMYCIN ANHYDROUS [Suspect]
     Active Substance: AZITHROMYCIN ANHYDROUS
     Indication: Migraine
     Route: 065
  368. ZESTRIL [Suspect]
     Active Substance: LISINOPRIL
     Dosage: UNK, QD
     Route: 048
  369. ZESTRIL [Suspect]
     Active Substance: LISINOPRIL
     Route: 065
  370. METRONIDAZOLE [Concomitant]
     Active Substance: METRONIDAZOLE
     Route: 065
  371. METRONIDAZOLE [Concomitant]
     Active Substance: METRONIDAZOLE
     Route: 065
  372. AMOXICILLIN TRIHYDRATE [Concomitant]
     Active Substance: AMOXICILLIN
     Dosage: 2 DOSAGE FORM, TID
     Route: 065
  373. AMOXICILLIN TRIHYDRATE [Concomitant]
     Active Substance: AMOXICILLIN
     Route: 065
  374. LISINOPRIL [Concomitant]
     Active Substance: LISINOPRIL
     Dosage: 1 DOSAGE FORM, QD
     Route: 065
  375. LISINOPRIL [Concomitant]
     Active Substance: LISINOPRIL
     Dosage: 1 DOSAGE FORM, QD
     Route: 065
  376. LISINOPRIL [Concomitant]
     Active Substance: LISINOPRIL
     Dosage: 2  DOSAGE FORM, QD
     Route: 065
  377. LISINOPRIL [Concomitant]
     Active Substance: LISINOPRIL
     Dosage: 2 DF, 1X/DAY
     Route: 065
  378. LISINOPRIL [Concomitant]
     Active Substance: LISINOPRIL
     Route: 065
  379. LISINOPRIL [Concomitant]
     Active Substance: LISINOPRIL
  380. APO-SALVENT CFC FREE [Concomitant]
     Dosage: 1 DOSAGE FORM, QID
     Route: 065
  381. APO-SALVENT CFC FREE [Concomitant]
     Route: 065
  382. CEFUROXIME AXETIL [Concomitant]
     Active Substance: CEFUROXIME AXETIL
     Dosage: 1 DOSAGE FORM, BID
     Route: 065
  383. CEFUROXIME AXETIL [Concomitant]
     Active Substance: CEFUROXIME AXETIL
     Dosage: 1 DOSAGE FORM, QD
     Route: 065
  384. CEFUROXIME AXETIL [Concomitant]
     Active Substance: CEFUROXIME AXETIL
     Dosage: 1 DOSAGE FORM, TID
  385. CEFUROXIME AXETIL [Concomitant]
     Active Substance: CEFUROXIME AXETIL
     Route: 065
  386. CEFUROXIME AXETIL [Concomitant]
     Active Substance: CEFUROXIME AXETIL
     Route: 065
  387. CEFUROXIME AXETIL [Concomitant]
     Active Substance: CEFUROXIME AXETIL
     Route: 065
  388. CEFUROXIME AXETIL [Concomitant]
     Active Substance: CEFUROXIME AXETIL
     Dosage: 1 DOSAGE FORM, BID
     Route: 065
  389. CEFUROXIME AXETIL [Concomitant]
     Active Substance: CEFUROXIME AXETIL
     Route: 065
  390. CEFUROXIME AXETIL [Concomitant]
     Active Substance: CEFUROXIME AXETIL
     Dosage: 1 DF, 2X/DAY
     Route: 065
  391. CEFUROXIME AXETIL [Concomitant]
     Active Substance: CEFUROXIME AXETIL
     Route: 065
  392. CEFUROXIME AXETIL [Concomitant]
     Active Substance: CEFUROXIME AXETIL
     Route: 065
  393. CEFUROXIME AXETIL [Concomitant]
     Active Substance: CEFUROXIME AXETIL
     Route: 065
  394. CEFUROXIME AXETIL [Concomitant]
     Active Substance: CEFUROXIME AXETIL
     Dosage: 3 DOSAGE FORM, QD
     Route: 065
  395. CEFUROXIME AXETIL [Concomitant]
     Active Substance: CEFUROXIME AXETIL
     Dosage: 1 DOSAGE FORM, Q12H
     Route: 065
  396. CEFUROXIME AXETIL [Concomitant]
     Active Substance: CEFUROXIME AXETIL
     Dosage: 2 DOSAGE FORM, QD
     Route: 065
  397. CEPHALEXIN [Concomitant]
     Active Substance: CEPHALEXIN
     Dosage: 1 DOSAGE FORM, TID
     Route: 065
  398. CEPHALEXIN [Concomitant]
     Active Substance: CEPHALEXIN
     Dosage: 1 DF, 1X/DAY
     Route: 065
  399. CEPHALEXIN [Concomitant]
     Active Substance: CEPHALEXIN
     Route: 065
  400. CEPHALEXIN [Concomitant]
     Active Substance: CEPHALEXIN
     Route: 065
  401. CEPHALEXIN [Concomitant]
     Active Substance: CEPHALEXIN
     Dosage: 3 DOSAGE FORM, QD
     Route: 065
  402. CEPHALEXIN [Concomitant]
     Active Substance: CEPHALEXIN
     Route: 065
  403. FLUTICASONE [Concomitant]
     Active Substance: FLUTICASONE
     Dosage: 2 DOSAGE FORM, BID
     Route: 055
  404. FLUTICASONE [Concomitant]
     Active Substance: FLUTICASONE
     Dosage: 2 DOSAGE FORM, BID
     Route: 055
  405. FLUTICASONE [Concomitant]
     Active Substance: FLUTICASONE
  406. FLUTICASONE [Concomitant]
     Active Substance: FLUTICASONE
     Dosage: 2 DOSAGE FORM, BID
     Route: 065
  407. FLUTICASONE [Concomitant]
     Active Substance: FLUTICASONE
     Route: 055
  408. FLUTICASONE [Concomitant]
     Active Substance: FLUTICASONE
     Dosage: 2 DF, 1X/DAY
     Route: 065
  409. FLUTICASONE [Concomitant]
     Active Substance: FLUTICASONE
     Route: 065
  410. FLUTICASONE [Concomitant]
     Active Substance: FLUTICASONE
     Route: 065
  411. FLUTICASONE [Concomitant]
     Active Substance: FLUTICASONE
     Dosage: 2 DOSAGE FORM, QOD
     Route: 055
  412. FLUTICASONE [Concomitant]
     Active Substance: FLUTICASONE
     Dosage: 2 DOSAGE FORM, QD
     Route: 065
  413. FLUTICASONE [Concomitant]
     Active Substance: FLUTICASONE
     Dosage: 2 DOSAGE FORM, TID
     Route: 065
  414. FLUTICASONE [Concomitant]
     Active Substance: FLUTICASONE
     Route: 065
  415. FLUTICASONE [Concomitant]
     Active Substance: FLUTICASONE
     Dosage: 2 DOSAGE FORM, QOD
     Route: 055
  416. FLUTICASONE [Concomitant]
     Active Substance: FLUTICASONE
     Route: 065
  417. MACROBID [Concomitant]
     Active Substance: NITROFURANTOIN\NITROFURANTOIN MONOHYDRATE
     Dosage: 1 DOSAGE FORM, BID
     Route: 065
  418. MACROBID [Concomitant]
     Active Substance: NITROFURANTOIN\NITROFURANTOIN MONOHYDRATE
     Route: 065
  419. MACROBID [Concomitant]
     Active Substance: NITROFURANTOIN\NITROFURANTOIN MONOHYDRATE
     Route: 065
  420. MACROBID [Concomitant]
     Active Substance: NITROFURANTOIN\NITROFURANTOIN MONOHYDRATE
     Route: 065
  421. MACROBID [Concomitant]
     Active Substance: NITROFURANTOIN\NITROFURANTOIN MONOHYDRATE
     Dosage: 1 DOSAGE FORM, QD
     Route: 065
  422. MACROBID [Concomitant]
     Active Substance: NITROFURANTOIN\NITROFURANTOIN MONOHYDRATE
  423. METOCLOPRAMIDE [Concomitant]
     Active Substance: METOCLOPRAMIDE
     Dosage: 1 DOSAGE FORM, QD
     Route: 065
  424. METOCLOPRAMIDE [Concomitant]
     Active Substance: METOCLOPRAMIDE
     Route: 065
  425. METOCLOPRAMIDE [Concomitant]
     Active Substance: METOCLOPRAMIDE
     Route: 065
  426. METOCLOPRAMIDE [Concomitant]
     Active Substance: METOCLOPRAMIDE
     Route: 065
  427. METOCLOPRAMIDE [Concomitant]
     Active Substance: METOCLOPRAMIDE
     Route: 065
  428. NAPROXEN [Concomitant]
     Active Substance: NAPROXEN
     Indication: Headache
     Dosage: 1 DOSAGE FORM, BID
     Route: 065
  429. NAPROXEN [Concomitant]
     Active Substance: NAPROXEN
     Dosage: 1 DOSAGE FORM, TID
     Route: 065
  430. NAPROXEN [Concomitant]
     Active Substance: NAPROXEN
     Dosage: 1 DF, 1X/DAY
     Route: 065
  431. NAPROXEN [Concomitant]
     Active Substance: NAPROXEN
     Route: 065
  432. NAPROXEN [Concomitant]
     Active Substance: NAPROXEN
     Route: 065
  433. NASONEX [Concomitant]
     Active Substance: MOMETASONE FUROATE
     Indication: Migraine
     Dosage: 2 DF, 2X/DAY (2 DOSAGE FORMS, 12HR))
     Route: 055
  434. NASONEX [Concomitant]
     Active Substance: MOMETASONE FUROATE
     Dosage: 2 DF, 2X/DAY (SPRAY (EXCEPT INHALATION))
     Route: 050
  435. NASONEX [Concomitant]
     Active Substance: MOMETASONE FUROATE
     Dosage: 2 DOSAGE FORM, QD (SPRAY (EXCEPT INHALATION)
     Route: 065
  436. NASONEX [Concomitant]
     Active Substance: MOMETASONE FUROATE
     Dosage: 2 DOSAGE FORM, BID(SPRAY (EXCEPT INHALATION))
     Route: 065
  437. NASONEX [Concomitant]
     Active Substance: MOMETASONE FUROATE
     Route: 050
  438. NASONEX [Concomitant]
     Active Substance: MOMETASONE FUROATE
     Dosage: 2 DF, 1X/DAY (SPRAY (EXCEPT INHALATION))
     Route: 065
  439. NASONEX [Concomitant]
     Active Substance: MOMETASONE FUROATE
     Route: 065
  440. NASONEX [Concomitant]
     Active Substance: MOMETASONE FUROATE
     Route: 065
  441. NASONEX [Concomitant]
     Active Substance: MOMETASONE FUROATE
     Route: 065
  442. NASONEX [Concomitant]
     Active Substance: MOMETASONE FUROATE
     Dosage: 1 DOSAGE FORM, TID
     Route: 065
  443. NASONEX [Concomitant]
     Active Substance: MOMETASONE FUROATE
     Dosage: 2 DOSAGE FORM, QD
     Route: 065
  444. OSELTAMIVIR [Concomitant]
     Active Substance: OSELTAMIVIR
     Dosage: 1 DOSAGE FORM Q12HR
     Route: 065
  445. OSELTAMIVIR [Concomitant]
     Active Substance: OSELTAMIVIR
     Dosage: 1 DF, 1X/DAY
     Route: 065
  446. OSELTAMIVIR [Concomitant]
     Active Substance: OSELTAMIVIR
     Dosage: 1 DOSAGE FORM, BID
     Route: 065
  447. OSELTAMIVIR [Concomitant]
     Active Substance: OSELTAMIVIR
     Route: 065
  448. OSELTAMIVIR [Concomitant]
     Active Substance: OSELTAMIVIR
     Dosage: 1 DOSAGE FORM, TID
     Route: 065
  449. STATEX [Concomitant]
     Dosage: 1 DF, 1X/DAY
     Route: 065
  450. STATEX [Concomitant]
     Dosage: 1 DF, 1X/DAY
     Route: 065
  451. STATEX [Concomitant]
     Dosage: 1 DF, 1X/DAY
     Route: 065
  452. STATEX [Concomitant]
     Dosage: 1 DF, 1X/DAY
     Route: 065
  453. STATEX [Concomitant]
     Dosage: 1 DF, 1X/DAY
     Route: 065
  454. STATEX [Concomitant]
     Dosage: 1 DF, 1X/DAY
     Route: 065
  455. STATEX [Concomitant]
     Dosage: 1 DF, 1X/DAY
     Route: 065
  456. STATEX [Concomitant]
     Dosage: 1 DF, 1X/DAY
     Route: 065
  457. STATEX [Concomitant]
     Route: 065
  458. SULFATRIM [Concomitant]
     Active Substance: SULFAMETHOXAZOLE\TRIMETHOPRIM
     Dosage: 1 DF, 2X/DAY (1 DOSAGE FORMS, 12 HR)
     Route: 065
  459. SULFATRIM [Concomitant]
     Active Substance: SULFAMETHOXAZOLE\TRIMETHOPRIM
     Dosage: 2 DOSAGE FORM, BID
     Route: 065
  460. SULFATRIM [Concomitant]
     Active Substance: SULFAMETHOXAZOLE\TRIMETHOPRIM
     Dosage: 1 DOSAGE FORM, QD
     Route: 065
  461. SULFATRIM [Concomitant]
     Active Substance: SULFAMETHOXAZOLE\TRIMETHOPRIM
     Route: 065
  462. SULFATRIM [Concomitant]
     Active Substance: SULFAMETHOXAZOLE\TRIMETHOPRIM
     Route: 065
  463. SULFATRIM [Concomitant]
     Active Substance: SULFAMETHOXAZOLE\TRIMETHOPRIM
     Dosage: 2 DOSAGE FORM, QD
     Route: 065
  464. SULFATRIM [Concomitant]
     Active Substance: SULFAMETHOXAZOLE\TRIMETHOPRIM
     Route: 065
  465. ACETAMINOPHEN\CAFFEINE\CODEINE [Concomitant]
     Active Substance: ACETAMINOPHEN\CAFFEINE\CODEINE
     Dosage: UNK UNK, 4X/DAY
     Route: 065
  466. ACETAMINOPHEN\CAFFEINE\CODEINE [Concomitant]
     Active Substance: ACETAMINOPHEN\CAFFEINE\CODEINE
     Dosage: UNK UNK, 4X/DAY
     Route: 065
  467. ACETAMINOPHEN\CAFFEINE\CODEINE [Concomitant]
     Active Substance: ACETAMINOPHEN\CAFFEINE\CODEINE
     Dosage: UNK UNK, 4X/DAY
     Route: 065
  468. ACETAMINOPHEN\CAFFEINE\CODEINE [Concomitant]
     Active Substance: ACETAMINOPHEN\CAFFEINE\CODEINE
     Dosage: UNK UNK, 4X/DAY
     Route: 065
  469. ACETAMINOPHEN\CAFFEINE\CODEINE [Concomitant]
     Active Substance: ACETAMINOPHEN\CAFFEINE\CODEINE
     Dosage: UNK UNK, 4X/DAY
     Route: 065
  470. ACETAMINOPHEN\CAFFEINE\CODEINE [Concomitant]
     Active Substance: ACETAMINOPHEN\CAFFEINE\CODEINE
     Dosage: UNK UNK, 4X/DAY
     Route: 065
  471. ACETAMINOPHEN\CAFFEINE\CODEINE [Concomitant]
     Active Substance: ACETAMINOPHEN\CAFFEINE\CODEINE
     Dosage: UNK UNK, 4X/DAY
     Route: 065
  472. ACETAMINOPHEN\CAFFEINE\CODEINE [Concomitant]
     Active Substance: ACETAMINOPHEN\CAFFEINE\CODEINE
     Dosage: UNK UNK, 4X/DAY
     Route: 065
  473. ACETAMINOPHEN\CAFFEINE\CODEINE [Concomitant]
     Active Substance: ACETAMINOPHEN\CAFFEINE\CODEINE
     Dosage: UNK UNK, 4X/DAY
     Route: 065
  474. ACETAMINOPHEN\CAFFEINE\CODEINE [Concomitant]
     Active Substance: ACETAMINOPHEN\CAFFEINE\CODEINE
     Dosage: UNK UNK, 4X/DAY
     Route: 065
  475. ACETAMINOPHEN\CAFFEINE\CODEINE [Concomitant]
     Active Substance: ACETAMINOPHEN\CAFFEINE\CODEINE
     Dosage: UNK UNK, 4X/DAY
     Route: 065
  476. ACETAMINOPHEN\CAFFEINE\CODEINE [Concomitant]
     Active Substance: ACETAMINOPHEN\CAFFEINE\CODEINE
     Dosage: UNK UNK, 4X/DAY
     Route: 065
  477. ACETAMINOPHEN\CAFFEINE\CODEINE [Concomitant]
     Active Substance: ACETAMINOPHEN\CAFFEINE\CODEINE
     Dosage: UNK UNK, 4X/DAY
     Route: 065
  478. ACETAMINOPHEN\CAFFEINE\CODEINE [Concomitant]
     Active Substance: ACETAMINOPHEN\CAFFEINE\CODEINE
     Dosage: UNK UNK, 4X/DAY
     Route: 065
  479. ACETAMINOPHEN\CAFFEINE\CODEINE [Concomitant]
     Active Substance: ACETAMINOPHEN\CAFFEINE\CODEINE
     Dosage: UNK UNK, 4X/DAY
     Route: 065
  480. ACETAMINOPHEN\CAFFEINE\CODEINE [Concomitant]
     Active Substance: ACETAMINOPHEN\CAFFEINE\CODEINE
     Dosage: UNK UNK, 4X/DAY
     Route: 065
  481. ACETAMINOPHEN\CAFFEINE\CODEINE [Concomitant]
     Active Substance: ACETAMINOPHEN\CAFFEINE\CODEINE
     Dosage: UNK UNK, 4X/DAY
     Route: 065
  482. ACETAMINOPHEN\CAFFEINE\CODEINE [Concomitant]
     Active Substance: ACETAMINOPHEN\CAFFEINE\CODEINE
     Dosage: UNK UNK, 4X/DAY
     Route: 065
  483. ACETAMINOPHEN\CAFFEINE\CODEINE [Concomitant]
     Active Substance: ACETAMINOPHEN\CAFFEINE\CODEINE
     Dosage: UNK UNK, 4X/DAY
     Route: 065
  484. ACETAMINOPHEN\CAFFEINE\CODEINE [Concomitant]
     Active Substance: ACETAMINOPHEN\CAFFEINE\CODEINE
     Dosage: UNK UNK, 4X/DAY
     Route: 065
  485. ACETAMINOPHEN\CAFFEINE\CODEINE [Concomitant]
     Active Substance: ACETAMINOPHEN\CAFFEINE\CODEINE
     Dosage: UNK UNK, 4X/DAY
     Route: 065
  486. ACETAMINOPHEN\CAFFEINE\CODEINE [Concomitant]
     Active Substance: ACETAMINOPHEN\CAFFEINE\CODEINE
     Dosage: UNK UNK, 4X/DAY
     Route: 065
  487. ACETAMINOPHEN\CAFFEINE\CODEINE [Concomitant]
     Active Substance: ACETAMINOPHEN\CAFFEINE\CODEINE
     Dosage: UNK UNK, 4X/DAY
     Route: 065
  488. ACETAMINOPHEN\CAFFEINE\CODEINE [Concomitant]
     Active Substance: ACETAMINOPHEN\CAFFEINE\CODEINE
     Dosage: UNK UNK, 4X/DAY
     Route: 065
  489. ACETAMINOPHEN\CAFFEINE\CODEINE [Concomitant]
     Active Substance: ACETAMINOPHEN\CAFFEINE\CODEINE
     Dosage: UNK UNK, 4X/DAY
     Route: 065
  490. ACETAMINOPHEN\CAFFEINE\CODEINE [Concomitant]
     Active Substance: ACETAMINOPHEN\CAFFEINE\CODEINE
     Dosage: UNK UNK, 4X/DAY
     Route: 065
  491. ACETAMINOPHEN\CAFFEINE\CODEINE [Concomitant]
     Active Substance: ACETAMINOPHEN\CAFFEINE\CODEINE
     Dosage: UNK UNK, 4X/DAY
     Route: 065
  492. ACETAMINOPHEN\CAFFEINE\CODEINE [Concomitant]
     Active Substance: ACETAMINOPHEN\CAFFEINE\CODEINE
     Dosage: UNK UNK, 4X/DAY
     Route: 065
  493. ACETAMINOPHEN\CAFFEINE\CODEINE [Concomitant]
     Active Substance: ACETAMINOPHEN\CAFFEINE\CODEINE
     Dosage: UNK UNK, 4X/DAY
     Route: 065
  494. ACETAMINOPHEN\CAFFEINE\CODEINE [Concomitant]
     Active Substance: ACETAMINOPHEN\CAFFEINE\CODEINE
     Dosage: UNK UNK, 4X/DAY
     Route: 065
  495. ACETAMINOPHEN\CAFFEINE\CODEINE [Concomitant]
     Active Substance: ACETAMINOPHEN\CAFFEINE\CODEINE
     Dosage: UNK UNK, 4X/DAY
     Route: 065
  496. ACETAMINOPHEN\CAFFEINE\CODEINE [Concomitant]
     Active Substance: ACETAMINOPHEN\CAFFEINE\CODEINE
     Dosage: UNK UNK, 4X/DAY
     Route: 065
  497. ACETAMINOPHEN\CAFFEINE\CODEINE [Concomitant]
     Active Substance: ACETAMINOPHEN\CAFFEINE\CODEINE
     Dosage: UNK UNK, 4X/DAY
     Route: 065
  498. ACETAMINOPHEN\CAFFEINE\CODEINE [Concomitant]
     Active Substance: ACETAMINOPHEN\CAFFEINE\CODEINE
     Dosage: UNK UNK, 4X/DAY
     Route: 065
  499. ACETAMINOPHEN\CAFFEINE\CODEINE [Concomitant]
     Active Substance: ACETAMINOPHEN\CAFFEINE\CODEINE
     Dosage: UNK UNK, 4X/DAY
     Route: 065
  500. ACETAMINOPHEN\CAFFEINE\CODEINE [Concomitant]
     Active Substance: ACETAMINOPHEN\CAFFEINE\CODEINE
     Dosage: UNK UNK, 4X/DAY
     Route: 065
  501. ACETAMINOPHEN\CAFFEINE\CODEINE [Concomitant]
     Active Substance: ACETAMINOPHEN\CAFFEINE\CODEINE
     Route: 065
  502. ACETAMINOPHEN\CAFFEINE\CODEINE [Concomitant]
     Active Substance: ACETAMINOPHEN\CAFFEINE\CODEINE
     Route: 065
  503. ACETAMINOPHEN\CAFFEINE\CODEINE [Concomitant]
     Active Substance: ACETAMINOPHEN\CAFFEINE\CODEINE
     Dosage: 4 DOSAGE FORM, QD
     Route: 065
  504. MORPHINE SULFATE [Concomitant]
     Active Substance: MORPHINE SULFATE
     Dosage: 1 DOSAGE FORM, QD
     Route: 065
  505. MORPHINE SULFATE [Concomitant]
     Active Substance: MORPHINE SULFATE
     Dosage: 1 DOSAGE FORM, QD
     Route: 065
  506. MORPHINE SULFATE [Concomitant]
     Active Substance: MORPHINE SULFATE
     Route: 065
  507. MORPHINE SULFATE [Concomitant]
     Active Substance: MORPHINE SULFATE
     Route: 065
  508. MORPHINE SULFATE [Concomitant]
     Active Substance: MORPHINE SULFATE
     Dosage: 1 DOSAGE FORM, QD
     Route: 065
  509. MORPHINE SULFATE [Concomitant]
     Active Substance: MORPHINE SULFATE
     Dosage: 1 DOSAGE FORM, QD
     Route: 065
  510. MORPHINE SULFATE [Concomitant]
     Active Substance: MORPHINE SULFATE
     Dosage: 1 DOSAGE FORM, QD
     Route: 065
  511. MORPHINE SULFATE [Concomitant]
     Active Substance: MORPHINE SULFATE
     Dosage: 1 DOSAGE FORM, QD
     Route: 065
  512. MORPHINE SULFATE [Concomitant]
     Active Substance: MORPHINE SULFATE
     Dosage: 1 DOSAGE FORM, QD
     Route: 065
  513. MORPHINE SULFATE [Concomitant]
     Active Substance: MORPHINE SULFATE
     Dosage: 1 DOSAGE FORM, QD
     Route: 065
  514. VENLAFAXINE HYDROCHLORIDE [Concomitant]
     Active Substance: VENLAFAXINE HYDROCHLORIDE
     Route: 065
  515. VENLAFAXINE HYDROCHLORIDE [Concomitant]
     Active Substance: VENLAFAXINE HYDROCHLORIDE
     Route: 065
  516. VENLAFAXINE HYDROCHLORIDE [Concomitant]
     Active Substance: VENLAFAXINE HYDROCHLORIDE
     Route: 065
  517. FERROUS FUMARATE [Concomitant]
     Active Substance: FERROUS FUMARATE
     Route: 065
  518. FERROUS FUMARATE [Concomitant]
     Active Substance: FERROUS FUMARATE
  519. POLYETHYLENE GLYCOLS [Concomitant]
     Active Substance: POLYETHYLENE GLYCOLS
     Route: 065
  520. POLYETHYLENE GLYCOLS [Concomitant]
     Active Substance: POLYETHYLENE GLYCOLS
     Dosage: 1 DF, 1X/DAY
  521. ACETAMINOPHEN\CODEINE PHOSPHATE [Concomitant]
     Active Substance: ACETAMINOPHEN\CODEINE PHOSPHATE
     Route: 065
  522. ACETAMINOPHEN\CODEINE PHOSPHATE [Concomitant]
     Active Substance: ACETAMINOPHEN\CODEINE PHOSPHATE
     Route: 065
  523. DEXAMETHASONE SODIUM SUCCINATE [Concomitant]
     Active Substance: DEXAMETHASONE SODIUM SUCCINATE
     Indication: Migraine
     Route: 065
  524. DEXAMETHASONE SODIUM SUCCINATE [Concomitant]
     Active Substance: DEXAMETHASONE SODIUM SUCCINATE
     Dosage: 1 DOSAGE FORM, QD
     Route: 065
  525. SULFAMETHOXAZOLE AND TRIMETHOPRIM [Concomitant]
     Active Substance: SULFAMETHOXAZOLE\TRIMETHOPRIM
     Dosage: 2 DOSAGE FORM, QD
     Route: 065
  526. SULFAMETHOXAZOLE AND TRIMETHOPRIM [Concomitant]
     Active Substance: SULFAMETHOXAZOLE\TRIMETHOPRIM
     Route: 065
  527. SULFAMETHOXAZOLE AND TRIMETHOPRIM [Concomitant]
     Active Substance: SULFAMETHOXAZOLE\TRIMETHOPRIM
     Dosage: 1 DOSAGE FORM, QD
     Route: 065
  528. FROVA [Concomitant]
     Active Substance: FROVATRIPTAN SUCCINATE
     Dosage: 1 DOSAGE FORM, QD
     Route: 065
  529. FROVA [Concomitant]
     Active Substance: FROVATRIPTAN SUCCINATE
     Dosage: 1 DF, 1X/DAY
     Route: 065
  530. FROVA [Concomitant]
     Active Substance: FROVATRIPTAN SUCCINATE
     Dosage: 1 DOSAGE FORM, QD
     Route: 065
  531. FROVATRIPTAN SUCCINATE [Concomitant]
     Active Substance: FROVATRIPTAN SUCCINATE
     Route: 065
  532. FROVATRIPTAN SUCCINATE [Concomitant]
     Active Substance: FROVATRIPTAN SUCCINATE
     Dosage: 1 DOSAGE FORM, QD
     Route: 065
  533. CEFUROXIME [Concomitant]
     Active Substance: CEFUROXIME
     Route: 065
  534. DANAZOL [Concomitant]
     Active Substance: DANAZOL
     Dosage: UNK UNK, BID
     Route: 065
  535. DANAZOL [Concomitant]
     Active Substance: DANAZOL
     Dosage: 1 DOSAGE FORM, QOD
  536. DANAZOL [Concomitant]
     Active Substance: DANAZOL
     Dosage: 1 DOSAGE FORM, BID
  537. ACETAMINOPHEN\TRAMADOL [Concomitant]
     Active Substance: ACETAMINOPHEN\TRAMADOL
     Indication: Migraine
  538. ACETAMINOPHEN AND CODEINE [Concomitant]
     Active Substance: ACETAMINOPHEN\CODEINE PHOSPHATE
     Dosage: UNK, 4X/DAY
     Route: 065
  539. ACETAMINOPHEN AND CODEINE [Concomitant]
     Active Substance: ACETAMINOPHEN\CODEINE PHOSPHATE
     Dosage: 4 DOSAGE FORM, QD
     Route: 065
  540. ACETAMINOPHEN AND CODEINE [Concomitant]
     Active Substance: ACETAMINOPHEN\CODEINE PHOSPHATE
     Dosage: UNK, 1X/DAY
  541. ACETAMINOPHEN AND CODEINE [Concomitant]
     Active Substance: ACETAMINOPHEN\CODEINE PHOSPHATE
     Dosage: UNK, 1X/DAY
  542. FLUOXETINE HYDROCHLORIDE [Concomitant]
     Active Substance: FLUOXETINE HYDROCHLORIDE
     Route: 065
  543. FLUOXETINE HYDROCHLORIDE [Concomitant]
     Active Substance: FLUOXETINE HYDROCHLORIDE
     Dosage: 2 DOSAGE FORM BID
  544. FLUOXETINE HYDROCHLORIDE [Concomitant]
     Active Substance: FLUOXETINE HYDROCHLORIDE
     Route: 065
  545. NITROFURANTOIN [Concomitant]
     Active Substance: NITROFURANTOIN
     Dosage: 100 MILLIGRAM ( 2 EVERY 1 DAYS) (1 DOSAGE FORMS)
     Route: 065
  546. NITROFURANTOIN [Concomitant]
     Active Substance: NITROFURANTOIN
     Route: 065
  547. NITROFURANTOIN [Concomitant]
     Active Substance: NITROFURANTOIN
  548. NITROFURANTOIN [Concomitant]
     Active Substance: NITROFURANTOIN
     Route: 065
  549. NITROFURANTOIN [Concomitant]
     Active Substance: NITROFURANTOIN
     Dosage: 1 DOSAGE FORM, BID
     Route: 065
  550. CEFALEXIN SODIUM [Concomitant]
     Dosage: 1 DOSAGE FORM, TID
     Route: 065
  551. CEFALEXIN SODIUM [Concomitant]
     Route: 065
  552. PARACETAMOL/TRAMADOL HYDROCHLORIDE/VITAMIN B1 NOS/VITAMIN B12 NOS [Concomitant]
  553. PARACETAMOL/TRAMADOL HYDROCHLORIDE/VITAMIN B1 NOS/VITAMIN B12 NOS [Concomitant]
     Route: 065
  554. DULOXETINE HYDROCHLORIDE [Concomitant]
     Active Substance: DULOXETINE HYDROCHLORIDE
     Indication: Migraine
     Dosage: 1 DOSAGE FORM, BID
     Route: 065
  555. DULOXETINE HYDROCHLORIDE [Concomitant]
     Active Substance: DULOXETINE HYDROCHLORIDE
     Dosage: 1 DOSAGE FORM, QD
     Route: 065
  556. DULOXETINE HYDROCHLORIDE [Concomitant]
     Active Substance: DULOXETINE HYDROCHLORIDE
     Route: 065
  557. DULOXETINE HYDROCHLORIDE [Concomitant]
     Active Substance: DULOXETINE HYDROCHLORIDE
     Route: 065
  558. DULOXETINE HYDROCHLORIDE [Concomitant]
     Active Substance: DULOXETINE HYDROCHLORIDE
     Route: 065
  559. MOMETASONE FUROATE [Concomitant]
     Active Substance: MOMETASONE FUROATE
     Dosage: 2 DF, 2X/DAY
     Route: 065
     Dates: start: 20190725
  560. MOMETASONE FUROATE [Concomitant]
     Active Substance: MOMETASONE FUROATE
     Dosage: 2 DF, 2X/DAY
     Route: 065
     Dates: start: 20190816, end: 20200109
  561. MOMETASONE FUROATE [Concomitant]
     Active Substance: MOMETASONE FUROATE
     Route: 065
  562. MOMETASONE FUROATE [Concomitant]
     Active Substance: MOMETASONE FUROATE
  563. DANAZOL [Concomitant]
     Active Substance: DANAZOL
     Dosage: 1 DOSAGE FORM, BID
     Route: 065
  564. DANAZOL [Concomitant]
     Active Substance: DANAZOL
     Dosage: 1 DOSAGE FORM, QOD
     Route: 065
  565. DANAZOL [Concomitant]
     Active Substance: DANAZOL
     Dosage: 1 DF, 1X/DAY
     Route: 048
  566. DANAZOL [Concomitant]
     Active Substance: DANAZOL
     Dosage: 2 DOSAGE FORM, QD
     Route: 065
  567. DANAZOL [Concomitant]
     Active Substance: DANAZOL
     Route: 065
  568. CEPHALEXIN MONOHYDRATE [Concomitant]
     Active Substance: CEPHALEXIN MONOHYDRATE
     Dosage: 1 DOSAGE FORM, TID
     Route: 065
  569. ALLOPURINOL [Concomitant]
     Active Substance: ALLOPURINOL
     Route: 065
  570. ALLOPURINOL [Concomitant]
     Active Substance: ALLOPURINOL
  571. AMOXICILLIN\CLARITHROMYCIN\ESOMEPRAZOLE [Concomitant]
     Active Substance: AMOXICILLIN\CLARITHROMYCIN\ESOMEPRAZOLE
     Route: 065
  572. ACETAMINOPHEN\CODEINE PHOSPHATE [Concomitant]
     Active Substance: ACETAMINOPHEN\CODEINE PHOSPHATE
     Route: 065
  573. LISINOPRIL [Concomitant]
     Active Substance: LISINOPRIL
     Dosage: 2 DOSAGE FORM, QD (1 EVERY 1 DAYS)
     Route: 048
  574. LISINOPRIL [Concomitant]
     Active Substance: LISINOPRIL
     Dosage: 1 DOSAGE FORM, QD (1 EVERY 1 DAYS)
     Route: 048
  575. ALLOPURINOL [Concomitant]
     Active Substance: ALLOPURINOL
     Route: 048
  576. AZITHROMYCIN [Concomitant]
     Active Substance: AZITHROMYCIN
  577. FLUTICASONE PROPIONATE [Concomitant]
     Active Substance: FLUTICASONE PROPIONATE
     Dosage: 2 DF, 2X/DAY (2 DOSAGE FORMS, 12 HR)
     Route: 055
  578. FLUTICASONE PROPIONATE [Concomitant]
     Active Substance: FLUTICASONE PROPIONATE
     Dosage: 2 DOSAGE FORM, QD
     Route: 065
  579. FLUTICASONE PROPIONATE [Concomitant]
     Active Substance: FLUTICASONE PROPIONATE
     Dosage: 2 DOSAGE FORM, BID
     Route: 055
  580. FLUTICASONE PROPIONATE [Concomitant]
     Active Substance: FLUTICASONE PROPIONATE
     Dosage: 2 DOSAGE FORM, TID
     Route: 065
  581. FLUTICASONE PROPIONATE [Concomitant]
     Active Substance: FLUTICASONE PROPIONATE
     Route: 055
  582. FLUTICASONE PROPIONATE [Concomitant]
     Active Substance: FLUTICASONE PROPIONATE
     Route: 055
  583. FLUTICASONE PROPIONATE [Concomitant]
     Active Substance: FLUTICASONE PROPIONATE
     Route: 065
  584. FLUTICASONE PROPIONATE [Concomitant]
     Active Substance: FLUTICASONE PROPIONATE
     Dosage: 2 DOSAGE FORM, QD
     Route: 065
  585. FLUTICASONE PROPIONATE [Concomitant]
     Active Substance: FLUTICASONE PROPIONATE
     Dosage: 4 DOSAGE FORM, QD (1 EVERY 1 DAYS)
     Route: 065
  586. FLUTICASONE PROPIONATE [Concomitant]
     Active Substance: FLUTICASONE PROPIONATE
     Dosage: 6 DOSAGE FORM, QD (1 EVERY 1 DAYS)
     Route: 065
  587. FLUTICASONE PROPIONATE [Concomitant]
     Active Substance: FLUTICASONE PROPIONATE
     Route: 065
  588. FLUTICASONE PROPIONATE [Concomitant]
     Active Substance: FLUTICASONE PROPIONATE
     Route: 065
  589. PANTOPRAZOLE SODIUM [Concomitant]
     Active Substance: PANTOPRAZOLE SODIUM
     Dosage: 1 DOSAGE FORM, BID
     Route: 065
  590. PANTOPRAZOLE SODIUM [Concomitant]
     Active Substance: PANTOPRAZOLE SODIUM
     Route: 065
  591. PANTOPRAZOLE SODIUM [Concomitant]
     Active Substance: PANTOPRAZOLE SODIUM
     Dosage: 2 DF, 2X/DAY (2 DOSAGE FORMS, 12 HR)
  592. PANTOPRAZOLE SODIUM [Concomitant]
     Active Substance: PANTOPRAZOLE SODIUM
     Dosage: 1 DOSAGE FORM, TID
  593. CYMBALTA [Concomitant]
     Active Substance: DULOXETINE HYDROCHLORIDE
     Dosage: 1 DF, 1X/DAY (1 DOSAGE FORMS, 1 D)
     Route: 065
  594. CYMBALTA [Concomitant]
     Active Substance: DULOXETINE HYDROCHLORIDE
     Dosage: 1 DF, 1X/DAY (1 DOSAGE FORMS, 1 D)
     Route: 065
  595. CYMBALTA [Concomitant]
     Active Substance: DULOXETINE HYDROCHLORIDE
     Dosage: 1 DF, 1X/DAY (1 DOSAGE FORMS, 1 D)
     Route: 065
  596. CYMBALTA [Concomitant]
     Active Substance: DULOXETINE HYDROCHLORIDE
     Dosage: 1 DF, 1X/DAY (1 DOSAGE FORMS, 1 D)
     Route: 065
  597. CYMBALTA [Concomitant]
     Active Substance: DULOXETINE HYDROCHLORIDE
     Dosage: 1 DF, 1X/DAY (1 DOSAGE FORMS, 1 D)
     Route: 065
  598. CYMBALTA [Concomitant]
     Active Substance: DULOXETINE HYDROCHLORIDE
     Dosage: 1 DF, 1X/DAY (1 DOSAGE FORMS, 1 D)
     Route: 065
  599. CYMBALTA [Concomitant]
     Active Substance: DULOXETINE HYDROCHLORIDE
     Dosage: 1 DF, 1X/DAY (1 DOSAGE FORMS, 1 D)
     Route: 065
  600. CYMBALTA [Concomitant]
     Active Substance: DULOXETINE HYDROCHLORIDE
     Dosage: 1 DF, 1X/DAY (1 DOSAGE FORMS, 1 D)
     Route: 065
  601. CYMBALTA [Concomitant]
     Active Substance: DULOXETINE HYDROCHLORIDE
     Dosage: 1 DF, 1X/DAY (1 DOSAGE FORMS, 1 D)
     Route: 065
  602. CYMBALTA [Concomitant]
     Active Substance: DULOXETINE HYDROCHLORIDE
     Dosage: 1 DF, 1X/DAY (1 DOSAGE FORMS, 1 D)
     Route: 065
  603. CYMBALTA [Concomitant]
     Active Substance: DULOXETINE HYDROCHLORIDE
     Dosage: 1 DF, 1X/DAY (1 DOSAGE FORMS, 1 D)
     Route: 065
  604. CYMBALTA [Concomitant]
     Active Substance: DULOXETINE HYDROCHLORIDE
     Dosage: 1 DF, 1X/DAY (1 DOSAGE FORMS, 1 D)
     Route: 065
  605. CYMBALTA [Concomitant]
     Active Substance: DULOXETINE HYDROCHLORIDE
     Dosage: 1 DF, 1X/DAY (1 DOSAGE FORMS, 1 D)
     Route: 065
  606. CYMBALTA [Concomitant]
     Active Substance: DULOXETINE HYDROCHLORIDE
     Dosage: 1 DF, 1X/DAY (1 DOSAGE FORMS, 1 D)
     Route: 065
  607. CYMBALTA [Concomitant]
     Active Substance: DULOXETINE HYDROCHLORIDE
     Dosage: 1 DF, 1X/DAY (1 DOSAGE FORMS, 1 D)
     Route: 065
  608. CYMBALTA [Concomitant]
     Active Substance: DULOXETINE HYDROCHLORIDE
     Dosage: 1 DF, 1X/DAY
     Route: 065
  609. CYMBALTA [Concomitant]
     Active Substance: DULOXETINE HYDROCHLORIDE
     Route: 065
  610. CYMBALTA [Concomitant]
     Active Substance: DULOXETINE HYDROCHLORIDE
     Dosage: 1 DF, 1X/DAY
     Route: 065
  611. CYMBALTA [Concomitant]
     Active Substance: DULOXETINE HYDROCHLORIDE
     Dosage: 1 DF, 1X/DAY
     Route: 065
  612. CYMBALTA [Concomitant]
     Active Substance: DULOXETINE HYDROCHLORIDE
     Dosage: 1 DF, 1X/DAY
     Route: 065
  613. CYMBALTA [Concomitant]
     Active Substance: DULOXETINE HYDROCHLORIDE
     Dosage: 1 DF, 1X/DAY
     Route: 065
  614. CYMBALTA [Concomitant]
     Active Substance: DULOXETINE HYDROCHLORIDE
     Dosage: 1 DF, 1X/DAY
     Route: 065
  615. CYMBALTA [Concomitant]
     Active Substance: DULOXETINE HYDROCHLORIDE
     Dosage: 1 DF, 1X/DAY
     Route: 065
  616. CYMBALTA [Concomitant]
     Active Substance: DULOXETINE HYDROCHLORIDE
     Dosage: 1 DF, 1X/DAY
     Route: 065
  617. CYMBALTA [Concomitant]
     Active Substance: DULOXETINE HYDROCHLORIDE
     Dosage: 1 DF, 1X/DAY
     Route: 065
  618. CYMBALTA [Concomitant]
     Active Substance: DULOXETINE HYDROCHLORIDE
     Dosage: 1 DF, 1X/DAY
     Route: 065
  619. CYMBALTA [Concomitant]
     Active Substance: DULOXETINE HYDROCHLORIDE
     Dosage: 1 DF, 1X/DAY
     Route: 065
  620. CYMBALTA [Concomitant]
     Active Substance: DULOXETINE HYDROCHLORIDE
     Dosage: 1 DF, 1X/DAY
     Route: 065
  621. CYMBALTA [Concomitant]
     Active Substance: DULOXETINE HYDROCHLORIDE
     Dosage: 1 DF, 1X/DAY
     Route: 065
  622. CYMBALTA [Concomitant]
     Active Substance: DULOXETINE HYDROCHLORIDE
     Dosage: 1 DF, 1X/DAY
     Route: 065
  623. CYMBALTA [Concomitant]
     Active Substance: DULOXETINE HYDROCHLORIDE
     Dosage: 1 DF, 1X/DAY
     Route: 065
  624. CYMBALTA [Concomitant]
     Active Substance: DULOXETINE HYDROCHLORIDE
     Dosage: 1 DF, 1X/DAY
     Route: 065
  625. CYMBALTA [Concomitant]
     Active Substance: DULOXETINE HYDROCHLORIDE
     Route: 065
  626. CYMBALTA [Concomitant]
     Active Substance: DULOXETINE HYDROCHLORIDE
     Dosage: 1 DOSAGE FORM, BID
     Route: 065
  627. CYMBALTA [Concomitant]
     Active Substance: DULOXETINE HYDROCHLORIDE
     Dosage: 1 DOSAGE FORM, QD
     Route: 065
  628. CYMBALTA [Concomitant]
     Active Substance: DULOXETINE HYDROCHLORIDE
     Route: 065
  629. CYMBALTA [Concomitant]
     Active Substance: DULOXETINE HYDROCHLORIDE
     Dosage: 2 DOSAGE FORM, QD
     Route: 065
  630. ALBUTEROL SULFATE [Concomitant]
     Active Substance: ALBUTEROL SULFATE
     Route: 065
  631. ALBUTEROL SULFATE [Concomitant]
     Active Substance: ALBUTEROL SULFATE
     Route: 065
  632. SULFAMETHOXAZOLE [Concomitant]
     Active Substance: SULFAMETHOXAZOLE
  633. PREDNISONE [Concomitant]
     Active Substance: PREDNISONE
     Dosage: 2 DOSAGE FORM, QD
     Route: 065
  634. SULFADIAZINE\TETROXOPRIM [Concomitant]
     Active Substance: SULFADIAZINE\TETROXOPRIM
     Dosage: 2 DOSAGE FORMS, 1EVERY 1 (DAYS)
     Route: 065

REACTIONS (9)
  - Angioedema [Recovered/Resolved]
  - Headache [Recovered/Resolved]
  - Drug intolerance [Recovered/Resolved]
  - Dysphonia [Recovered/Resolved]
  - Hypersensitivity [Recovered/Resolved]
  - Swollen tongue [Recovered/Resolved]
  - Swelling face [Recovered/Resolved]
  - Drug ineffective for unapproved indication [Unknown]
  - Off label use [Unknown]
